FAERS Safety Report 21132362 (Version 12)
Quarter: 2025Q4

REPORT INFORMATION
  Report Type: Report from Study
  Country: EU (occurrence: EU)
  Receive Date: 20220726
  Receipt Date: 20251225
  Transmission Date: 20260118
  Serious: Yes (Hospitalization, Other)
  Sender: TEVA
  Company Number: EU-002147023-NVSC2022DE021688

PATIENT
  Age: 66 Year
  Sex: Male
  Weight: 119 kg

DRUGS (559)
  1. RAMIPRIL [Suspect]
     Active Substance: RAMIPRIL
     Indication: Product used for unknown indication
     Dosage: 2 MG, BID
     Route: 065
  2. RAMIPRIL [Suspect]
     Active Substance: RAMIPRIL
     Indication: Product used for unknown indication
     Dosage: 2 MG, Q12H (2.5 MG, TWICE DAILY (1-0-1)
     Route: 065
  3. RAMIPRIL [Suspect]
     Active Substance: RAMIPRIL
     Indication: Product used for unknown indication
     Dosage: 2.5 MG, Q12H (2.5 MG, TWICE DAILY (1-0-1)
     Route: 065
  4. ATORVASTATIN CALCIUM [Concomitant]
     Active Substance: ATORVASTATIN CALCIUM
     Indication: Product used for unknown indication
     Dosage: UNK, QD
     Route: 065
  5. ATORVASTATIN CALCIUM [Concomitant]
     Active Substance: ATORVASTATIN CALCIUM
     Indication: Product used for unknown indication
     Dosage: UNK, QD
     Route: 065
  6. ATORVASTATIN CALCIUM [Concomitant]
     Active Substance: ATORVASTATIN CALCIUM
     Indication: Product used for unknown indication
     Dosage: UNK, QD
     Route: 065
  7. ATORVASTATIN CALCIUM [Concomitant]
     Active Substance: ATORVASTATIN CALCIUM
     Indication: Product used for unknown indication
     Dosage: UNK, QD (0-0-1)
     Route: 065
  8. ATORVASTATIN CALCIUM [Concomitant]
     Active Substance: ATORVASTATIN CALCIUM
     Indication: Product used for unknown indication
     Dosage: UNK, QD
     Route: 065
  9. ATORVASTATIN CALCIUM [Concomitant]
     Active Substance: ATORVASTATIN CALCIUM
     Indication: Product used for unknown indication
     Dosage: UNK, QD
     Route: 065
  10. ATORVASTATIN CALCIUM [Concomitant]
     Active Substance: ATORVASTATIN CALCIUM
     Indication: Product used for unknown indication
     Dosage: UNK, QD
     Route: 065
  11. ATORVASTATIN CALCIUM [Concomitant]
     Active Substance: ATORVASTATIN CALCIUM
     Indication: Product used for unknown indication
     Dosage: UNK, QD
     Route: 065
  12. ATORVASTATIN CALCIUM [Concomitant]
     Active Substance: ATORVASTATIN CALCIUM
     Indication: Product used for unknown indication
     Dosage: UNK, QD
     Route: 065
  13. ATORVASTATIN CALCIUM [Concomitant]
     Active Substance: ATORVASTATIN CALCIUM
     Indication: Product used for unknown indication
     Dosage: UNK, QD
     Route: 065
  14. ATORVASTATIN CALCIUM [Concomitant]
     Active Substance: ATORVASTATIN CALCIUM
     Indication: Product used for unknown indication
     Dosage: UNK, QD
     Route: 065
  15. ATORVASTATIN CALCIUM [Concomitant]
     Active Substance: ATORVASTATIN CALCIUM
     Indication: Product used for unknown indication
     Dosage: UNK, QD
     Route: 065
  16. ATORVASTATIN CALCIUM [Concomitant]
     Active Substance: ATORVASTATIN CALCIUM
     Indication: Product used for unknown indication
     Dosage: UNK, QD
     Route: 065
  17. ATORVASTATIN CALCIUM [Concomitant]
     Active Substance: ATORVASTATIN CALCIUM
     Indication: Product used for unknown indication
     Dosage: UNK, QD
     Route: 065
  18. ATORVASTATIN CALCIUM [Concomitant]
     Active Substance: ATORVASTATIN CALCIUM
     Indication: Product used for unknown indication
     Dosage: UNK, QD
     Route: 065
  19. BISOPROLOL [Concomitant]
     Active Substance: BISOPROLOL
     Indication: Product used for unknown indication
     Dosage: UNK UNK, QD (1-0-0)
     Route: 065
  20. BISOPROLOL [Concomitant]
     Active Substance: BISOPROLOL
     Indication: Product used for unknown indication
     Dosage: UNK ONCE DAILY (1-0-0)
     Route: 065
  21. BISOPROLOL [Concomitant]
     Active Substance: BISOPROLOL
     Indication: Product used for unknown indication
     Dosage: UNK UNK, QD (1-0-0)
     Route: 065
  22. BISOPROLOL [Concomitant]
     Active Substance: BISOPROLOL
     Indication: Product used for unknown indication
     Dosage: UNK UNK, QD (1-0-0)
     Route: 065
  23. BISOPROLOL [Concomitant]
     Active Substance: BISOPROLOL
     Indication: Product used for unknown indication
     Dosage: UNK UNK, QD (1-0-0)
     Route: 065
  24. BISOPROLOL [Concomitant]
     Active Substance: BISOPROLOL
     Indication: Product used for unknown indication
     Dosage: UNK UNK, QD (1-0-0)
     Route: 065
  25. BISOPROLOL [Concomitant]
     Active Substance: BISOPROLOL
     Indication: Product used for unknown indication
     Dosage: UNK UNK, QD (1-0-0)
     Route: 065
  26. BISOPROLOL [Concomitant]
     Active Substance: BISOPROLOL
     Indication: Product used for unknown indication
     Dosage: UNK UNK, QD (1-0-0)
     Route: 065
  27. BISOPROLOL [Concomitant]
     Active Substance: BISOPROLOL
     Indication: Product used for unknown indication
     Dosage: UNK UNK, QD (1-0-0)
     Route: 065
  28. TICAGRELOR [Concomitant]
     Active Substance: TICAGRELOR
     Indication: Product used for unknown indication
     Dosage: UNK, BID
     Route: 065
  29. TICAGRELOR [Concomitant]
     Active Substance: TICAGRELOR
     Indication: Product used for unknown indication
     Dosage: UNK, Q12H (DOSE DESCRIPTION : UNK UNK, TWICE DAILY (1-0-1)
     Route: 065
  30. TICAGRELOR [Concomitant]
     Active Substance: TICAGRELOR
     Indication: Product used for unknown indication
     Dosage: UNK, BID
     Route: 065
  31. TICAGRELOR [Concomitant]
     Active Substance: TICAGRELOR
     Indication: Product used for unknown indication
     Dosage: UNK, BID
     Route: 065
  32. TICAGRELOR [Concomitant]
     Active Substance: TICAGRELOR
     Indication: Product used for unknown indication
     Dosage: UNK, QD UNK, BID (1-0-1
     Route: 065
  33. TICAGRELOR [Concomitant]
     Active Substance: TICAGRELOR
     Indication: Product used for unknown indication
     Dosage: UNK, QD UNK, BID (1-0-1
     Route: 065
  34. TICAGRELOR [Concomitant]
     Active Substance: TICAGRELOR
     Indication: Product used for unknown indication
     Dosage: UNK, QD UNK, BID (1-0-1
     Route: 065
  35. TICAGRELOR [Concomitant]
     Active Substance: TICAGRELOR
     Indication: Product used for unknown indication
     Dosage: UNK, QD UNK, BID (1-0-1
     Route: 065
  36. TICAGRELOR [Concomitant]
     Active Substance: TICAGRELOR
     Indication: Product used for unknown indication
     Dosage: UNK, QD UNK, BID (1-0-1
     Route: 065
  37. TICAGRELOR [Concomitant]
     Active Substance: TICAGRELOR
     Indication: Product used for unknown indication
     Dosage: UNK, QD UNK, BID (1-0-1
     Route: 065
  38. TICAGRELOR [Concomitant]
     Active Substance: TICAGRELOR
     Indication: Product used for unknown indication
     Dosage: UNK, QD UNK, BID (1-0-1
     Route: 065
  39. TICAGRELOR [Concomitant]
     Active Substance: TICAGRELOR
     Indication: Product used for unknown indication
     Dosage: UNK, QD UNK, BID (1-0-1
     Route: 065
  40. TICAGRELOR [Concomitant]
     Active Substance: TICAGRELOR
     Indication: Product used for unknown indication
     Dosage: UNK, QD UNK, BID (1-0-1
     Route: 065
  41. TICAGRELOR [Concomitant]
     Active Substance: TICAGRELOR
     Indication: Product used for unknown indication
     Dosage: UNK, QD UNK, BID (1-0-1
     Route: 065
  42. TICAGRELOR [Concomitant]
     Active Substance: TICAGRELOR
     Indication: Product used for unknown indication
     Dosage: UNK, QD UNK, BID (1-0-1
     Route: 065
  43. PANTOPRAZOLE [Concomitant]
     Active Substance: PANTOPRAZOLE
     Indication: Product used for unknown indication
     Dosage: 40 MG, QD
     Route: 065
  44. PANTOPRAZOLE [Concomitant]
     Active Substance: PANTOPRAZOLE
     Indication: Product used for unknown indication
     Dosage: UNK, QD, (1-0-0)
     Route: 065
  45. PANTOPRAZOLE [Concomitant]
     Active Substance: PANTOPRAZOLE
     Indication: Product used for unknown indication
     Dosage: UNK, QD, (1-0-0)
     Route: 065
  46. PANTOPRAZOLE [Concomitant]
     Active Substance: PANTOPRAZOLE
     Indication: Product used for unknown indication
     Dosage: 40 MG, QD (UNK, QD (1-0-0))
     Route: 065
  47. PANTOPRAZOLE [Concomitant]
     Active Substance: PANTOPRAZOLE
     Indication: Product used for unknown indication
     Dosage: 40 MG, QD (UNK, QD, (1-0-0))
     Route: 065
  48. PANTOPRAZOLE [Concomitant]
     Active Substance: PANTOPRAZOLE
     Indication: Product used for unknown indication
     Dosage: UNK, QD (1-0-0)
     Route: 065
  49. PANTOPRAZOLE [Concomitant]
     Active Substance: PANTOPRAZOLE
     Indication: Product used for unknown indication
     Dosage: 40 MG, QD (1-0-1, THEN 1-0-0 FOR 2 WEEKS)
     Route: 065
  50. PANTOPRAZOLE [Concomitant]
     Active Substance: PANTOPRAZOLE
     Indication: Product used for unknown indication
     Dosage: UNK, QD (1-0-0)
     Route: 065
  51. PANTOPRAZOLE [Concomitant]
     Active Substance: PANTOPRAZOLE
     Indication: Product used for unknown indication
     Dosage: 40 MG, QD (UNK UNK, QD (1-0-0))
     Route: 065
  52. PANTOPRAZOLE [Concomitant]
     Active Substance: PANTOPRAZOLE
     Indication: Product used for unknown indication
     Dosage: UNK, QD, ONCE DAILY (1-0-0)
     Route: 065
  53. PANTOPRAZOLE [Concomitant]
     Active Substance: PANTOPRAZOLE
     Indication: Product used for unknown indication
     Dosage: 40 MG, QD (UNK, QD, (1-0-0))
     Route: 065
  54. PANTOPRAZOLE [Concomitant]
     Active Substance: PANTOPRAZOLE
     Indication: Product used for unknown indication
     Dosage: UNK, QD, (1-0-0)
     Route: 065
  55. PANTOPRAZOLE [Concomitant]
     Active Substance: PANTOPRAZOLE
     Indication: Product used for unknown indication
     Dosage: UNK, QD, (1-0-0)
     Route: 065
  56. PANTOPRAZOLE [Concomitant]
     Active Substance: PANTOPRAZOLE
     Indication: Product used for unknown indication
     Dosage: 40 MG (1-0-1, THEN 1-0-0 FOR 2 WEEKS)
     Route: 065
  57. PANTOPRAZOLE [Concomitant]
     Active Substance: PANTOPRAZOLE
     Indication: Product used for unknown indication
     Dosage: UNK, QD (1-0-0)
     Route: 065
  58. PANTOPRAZOLE [Concomitant]
     Active Substance: PANTOPRAZOLE
     Indication: Product used for unknown indication
     Dosage: DOSE DESCRIPTION : UNK UNK, ONCE DAILY (1-0-0)
     Route: 065
  59. PANTOPRAZOLE [Concomitant]
     Active Substance: PANTOPRAZOLE
     Indication: Product used for unknown indication
     Dosage: 40 MG, QD
     Route: 065
  60. PANTOPRAZOLE [Concomitant]
     Active Substance: PANTOPRAZOLE
     Indication: Product used for unknown indication
     Dosage: UNK, QD (1-0-0)
     Route: 065
  61. PANTOPRAZOLE [Concomitant]
     Active Substance: PANTOPRAZOLE
     Indication: Product used for unknown indication
     Dosage: UNK, QD (1-0-0)
     Route: 065
  62. PANTOPRAZOLE [Concomitant]
     Active Substance: PANTOPRAZOLE
     Indication: Product used for unknown indication
     Dosage: UNK UNK, QD (1-0-0)
     Route: 065
  63. PANTOPRAZOLE [Concomitant]
     Active Substance: PANTOPRAZOLE
     Indication: Product used for unknown indication
     Dosage: UNK, QD, ONCE DAILY (1-0-0)
     Route: 065
  64. PANTOPRAZOLE [Concomitant]
     Active Substance: PANTOPRAZOLE
     Indication: Product used for unknown indication
     Dosage: 40 MG, QD
     Route: 065
  65. PANTOPRAZOLE [Concomitant]
     Active Substance: PANTOPRAZOLE
     Indication: Product used for unknown indication
     Dosage: UNK, QD (1-0-0)
     Route: 065
  66. PANTOPRAZOLE [Concomitant]
     Active Substance: PANTOPRAZOLE
     Indication: Product used for unknown indication
     Dosage: UNK, QD
     Route: 065
  67. PANTOPRAZOLE [Concomitant]
     Active Substance: PANTOPRAZOLE
     Indication: Product used for unknown indication
     Dosage: UNK, QD (1-0-0)
     Route: 065
  68. PANTOPRAZOLE [Concomitant]
     Active Substance: PANTOPRAZOLE
     Indication: Product used for unknown indication
     Dosage: 40 MG, QD (1-0-1, THEN 1-0-0 FOR 2 WEEKS)
     Route: 065
  69. PANTOPRAZOLE [Concomitant]
     Active Substance: PANTOPRAZOLE
     Indication: Product used for unknown indication
     Dosage: 40 MG, QD (UNK, QD, (1-0-0))
     Route: 065
  70. PANTOPRAZOLE [Concomitant]
     Active Substance: PANTOPRAZOLE
     Indication: Product used for unknown indication
     Dosage: UNK, QD
     Route: 065
  71. PANTOPRAZOLE [Concomitant]
     Active Substance: PANTOPRAZOLE
     Indication: Product used for unknown indication
     Dosage: UNK, QD, (1-0-0)
     Route: 065
  72. PANTOPRAZOLE [Concomitant]
     Active Substance: PANTOPRAZOLE
     Indication: Product used for unknown indication
     Dosage: UNK, QD, (1-0-0)
     Route: 065
  73. PANTOPRAZOLE [Concomitant]
     Active Substance: PANTOPRAZOLE
     Indication: Product used for unknown indication
     Dosage: 40 MG, QD (UNK, QD, (1-0-0))
     Route: 065
  74. PANTOPRAZOLE [Concomitant]
     Active Substance: PANTOPRAZOLE
     Indication: Product used for unknown indication
     Dosage: UNK, QD (1-0-0)
     Route: 065
  75. PANTOPRAZOLE [Concomitant]
     Active Substance: PANTOPRAZOLE
     Indication: Product used for unknown indication
     Dosage: 40 MG, QD
     Route: 065
  76. PANTOPRAZOLE [Concomitant]
     Active Substance: PANTOPRAZOLE
     Indication: Product used for unknown indication
     Dosage: 40 MG, QD
     Route: 065
  77. PANTOPRAZOLE [Concomitant]
     Active Substance: PANTOPRAZOLE
     Indication: Product used for unknown indication
     Dosage: 40 MG, QD
     Route: 065
  78. PANTOPRAZOLE [Concomitant]
     Active Substance: PANTOPRAZOLE
     Indication: Product used for unknown indication
     Dosage: 40 MG, QD
     Route: 065
  79. PANTOPRAZOLE [Concomitant]
     Active Substance: PANTOPRAZOLE
     Indication: Product used for unknown indication
     Dosage: DOSE DESCRIPTION : UNK, QD (1-0-0)
     Route: 065
  80. PANTOPRAZOLE [Concomitant]
     Active Substance: PANTOPRAZOLE
     Indication: Product used for unknown indication
     Dosage: 40 MG, QD
     Route: 065
  81. PANTOPRAZOLE [Concomitant]
     Active Substance: PANTOPRAZOLE
     Indication: Product used for unknown indication
     Dosage: 40 MG, QD
     Route: 065
  82. PANTOPRAZOLE [Concomitant]
     Active Substance: PANTOPRAZOLE
     Indication: Product used for unknown indication
     Dosage: 40 MG, QD
     Route: 065
  83. PANTOPRAZOLE [Concomitant]
     Active Substance: PANTOPRAZOLE
     Indication: Product used for unknown indication
     Dosage: UNK, QD
     Route: 065
  84. PANTOPRAZOLE [Concomitant]
     Active Substance: PANTOPRAZOLE
     Indication: Product used for unknown indication
     Dosage: 40 MG (1-0-1, THEN 1-0-0 FOR 2 WEEKS)
     Route: 065
  85. PANTOPRAZOLE [Concomitant]
     Active Substance: PANTOPRAZOLE
     Indication: Product used for unknown indication
     Dosage: UNK, QD
     Route: 065
  86. PANTOPRAZOLE [Concomitant]
     Active Substance: PANTOPRAZOLE
     Indication: Product used for unknown indication
     Dosage: 40 MG, QD
     Route: 065
  87. PANTOPRAZOLE [Concomitant]
     Active Substance: PANTOPRAZOLE
     Indication: Product used for unknown indication
     Dosage: UNK, QD (1-0-0)
     Route: 065
  88. PANTOPRAZOLE [Concomitant]
     Active Substance: PANTOPRAZOLE
     Indication: Product used for unknown indication
     Dosage: UNK, QD, (1-0-0)
     Route: 065
  89. PANTOPRAZOLE [Concomitant]
     Active Substance: PANTOPRAZOLE
     Indication: Product used for unknown indication
     Dosage: UNK, QD (1-0-0)
     Route: 065
  90. PANTOPRAZOLE [Concomitant]
     Active Substance: PANTOPRAZOLE
     Indication: Product used for unknown indication
     Dosage: 40 MG, QD
     Route: 065
  91. PANTOPRAZOLE [Concomitant]
     Active Substance: PANTOPRAZOLE
     Indication: Product used for unknown indication
     Dosage: 40 MG, QD
     Route: 065
  92. PANTOPRAZOLE [Concomitant]
     Active Substance: PANTOPRAZOLE
     Indication: Product used for unknown indication
     Dosage: 40 MG, QD (UNK, QD, (1-0-0))
     Route: 065
  93. PANTOPRAZOLE [Concomitant]
     Active Substance: PANTOPRAZOLE
     Indication: Product used for unknown indication
     Dosage: 40 MG, QD (UNK UNK, QD (1-0-0))
     Route: 065
  94. PANTOPRAZOLE [Concomitant]
     Active Substance: PANTOPRAZOLE
     Indication: Product used for unknown indication
     Dosage: UNK, QD (1-0-0)
     Route: 065
  95. PANTOPRAZOLE [Concomitant]
     Active Substance: PANTOPRAZOLE
     Indication: Product used for unknown indication
     Dosage: 40 MG, QD
     Route: 065
  96. PANTOPRAZOLE [Concomitant]
     Active Substance: PANTOPRAZOLE
     Indication: Product used for unknown indication
     Dosage: UNK, QD
     Route: 065
  97. PANTOPRAZOLE [Concomitant]
     Active Substance: PANTOPRAZOLE
     Indication: Product used for unknown indication
     Dosage: 40 MG, QD
     Route: 065
  98. PANTOPRAZOLE [Concomitant]
     Active Substance: PANTOPRAZOLE
     Indication: Product used for unknown indication
     Dosage: UNK, QD (1-0-0)
     Route: 065
  99. PANTOPRAZOLE [Concomitant]
     Active Substance: PANTOPRAZOLE
     Indication: Product used for unknown indication
     Dosage: 40 MG, QD
     Route: 065
  100. PANTOPRAZOLE [Concomitant]
     Active Substance: PANTOPRAZOLE
     Indication: Product used for unknown indication
     Dosage: UNK, QD, (1-0-0)
     Route: 065
  101. PANTOPRAZOLE [Concomitant]
     Active Substance: PANTOPRAZOLE
     Indication: Product used for unknown indication
     Dosage: UNK, QD
     Route: 065
  102. PANTOPRAZOLE [Concomitant]
     Active Substance: PANTOPRAZOLE
     Indication: Product used for unknown indication
     Dosage: 40 MG, QD
     Route: 065
  103. PANTOPRAZOLE [Concomitant]
     Active Substance: PANTOPRAZOLE
     Indication: Product used for unknown indication
     Dosage: 40 MG, QD
     Route: 065
  104. PANTOPRAZOLE [Concomitant]
     Active Substance: PANTOPRAZOLE
     Indication: Product used for unknown indication
     Dosage: UNK, QD (1-0-0)
     Route: 065
  105. PANTOPRAZOLE [Concomitant]
     Active Substance: PANTOPRAZOLE
     Indication: Product used for unknown indication
     Dosage: 40 MG, QD
     Route: 065
  106. PANTOPRAZOLE [Concomitant]
     Active Substance: PANTOPRAZOLE
     Indication: Product used for unknown indication
     Dosage: 40 MG, QD
     Route: 065
  107. PANTOPRAZOLE [Concomitant]
     Active Substance: PANTOPRAZOLE
     Indication: Product used for unknown indication
     Dosage: UNK, QD (1-0-0)
     Route: 065
  108. PANTOPRAZOLE [Concomitant]
     Active Substance: PANTOPRAZOLE
     Indication: Product used for unknown indication
     Dosage: UNK, QD
     Route: 065
  109. PANTOPRAZOLE [Concomitant]
     Active Substance: PANTOPRAZOLE
     Indication: Product used for unknown indication
     Dosage: DOSE DESCRIPTION : UNK, QD (1-0-0)
     Route: 065
  110. ASPIRIN [Suspect]
     Active Substance: ASPIRIN
     Indication: Product used for unknown indication
     Dosage: 100 MG, QD (100 MG, ONCE DAILY (1-0-0))
     Route: 065
  111. ASPIRIN [Suspect]
     Active Substance: ASPIRIN
     Indication: Product used for unknown indication
     Dosage: 100 MG, QD
     Route: 065
  112. ASPIRIN [Suspect]
     Active Substance: ASPIRIN
     Indication: Product used for unknown indication
     Dosage: 100 MG, QD (1-0-0)
     Route: 065
  113. TAMSULOSIN HYDROCHLORIDE [Suspect]
     Active Substance: TAMSULOSIN HYDROCHLORIDE
     Indication: Product used for unknown indication
     Dosage: 0.4 MG, QD (0.4 MG, ONCE DAILY (1-0-0), TAMSULOSIN HYDROCHLORIDE
     Route: 065
  114. TAMSULOSIN HYDROCHLORIDE [Suspect]
     Active Substance: TAMSULOSIN HYDROCHLORIDE
     Indication: Product used for unknown indication
     Dosage: 0.4 MG, QD (0.4 MG, ONCE DAILY (1-0-0)); TAMSULOSIN HYDROCHLORIDE
     Route: 065
  115. TAMSULOSIN HYDROCHLORIDE [Suspect]
     Active Substance: TAMSULOSIN HYDROCHLORIDE
     Indication: Product used for unknown indication
     Dosage: 0.4 MG, QD (0.4 MG, ONCE DAILY (1-0-0)); TAMSULOSIN HYDROCHLORIDE
     Route: 065
  116. TAMSULOSIN HYDROCHLORIDE [Suspect]
     Active Substance: TAMSULOSIN HYDROCHLORIDE
     Indication: Product used for unknown indication
     Dosage: 0.4 MG, QD (0.4 MG, ONCE DAILY (1-0-0)); TAMSULOSIN HYDROCHLORIDE
     Route: 065
  117. TAMSULOSIN HYDROCHLORIDE [Suspect]
     Active Substance: TAMSULOSIN HYDROCHLORIDE
     Indication: Product used for unknown indication
     Dosage: 0.4 MG, QD (0.4 MG, ONCE DAILY (1-0-0)); TAMSULOSIN HYDROCHLORIDE
     Route: 065
  118. TADALAFIL AL [Concomitant]
     Indication: Product used for unknown indication
     Dosage: UNK, QD,  (1-0-0)
     Route: 065
  119. TADALAFIL AL [Concomitant]
     Indication: Product used for unknown indication
     Dosage: UNK, QD (1-0-0)
     Route: 065
  120. TADALAFIL AL [Concomitant]
     Indication: Product used for unknown indication
     Dosage: UNK
     Route: 065
  121. TADALAFIL AL [Concomitant]
     Indication: Product used for unknown indication
     Dosage: UNK
     Route: 065
  122. TADALAFIL AL [Concomitant]
     Indication: Product used for unknown indication
     Dosage: UNK UNK, QD (1-0-0)
     Route: 065
  123. TADALAFIL AL [Concomitant]
     Indication: Product used for unknown indication
     Dosage: UNK, QD,(1-0-0)
     Route: 065
  124. TADALAFIL AL [Concomitant]
     Indication: Product used for unknown indication
     Dosage: UNK, QD (1-0-0)
     Route: 065
  125. TADALAFIL AL [Concomitant]
     Indication: Product used for unknown indication
     Dosage: UNK, QD,  (1-0-0)
     Route: 065
  126. TADALAFIL AL [Concomitant]
     Indication: Product used for unknown indication
     Dosage: UNK
     Route: 065
  127. TADALAFIL AL [Concomitant]
     Indication: Product used for unknown indication
     Dosage: UNK, QD, (1-0-0)
     Route: 065
  128. TADALAFIL AL [Concomitant]
     Indication: Product used for unknown indication
     Dosage: UNK
     Route: 065
  129. TADALAFIL AL [Concomitant]
     Indication: Product used for unknown indication
     Dosage: UNK
     Route: 065
  130. TADALAFIL AL [Concomitant]
     Indication: Product used for unknown indication
     Dosage: UNK
     Route: 065
  131. TADALAFIL AL [Concomitant]
     Indication: Product used for unknown indication
     Dosage: UNK, QD (1-0-0)
     Route: 065
  132. TADALAFIL AL [Concomitant]
     Indication: Product used for unknown indication
     Dosage: UNK UNK, QD (1-0-0)
     Route: 065
  133. TADALAFIL AL [Concomitant]
     Indication: Product used for unknown indication
     Dosage: UNK, QD (1-0-0)
     Route: 065
  134. TADALAFIL AL [Concomitant]
     Indication: Product used for unknown indication
     Dosage: UNK, QD (1-0-0)
     Route: 065
  135. TADALAFIL AL [Concomitant]
     Indication: Product used for unknown indication
     Dosage: UNK, QD,(1-0-0)
     Route: 065
  136. TADALAFIL AL [Concomitant]
     Indication: Product used for unknown indication
     Dosage: UNK
     Route: 065
  137. TADALAFIL AL [Concomitant]
     Indication: Product used for unknown indication
     Dosage: UNK
     Route: 065
  138. TADALAFIL AL [Concomitant]
     Indication: Product used for unknown indication
     Dosage: UNK
     Route: 065
  139. TADALAFIL AL [Concomitant]
     Indication: Product used for unknown indication
     Dosage: UNK
     Route: 065
  140. TADALAFIL AL [Concomitant]
     Indication: Product used for unknown indication
     Dosage: UNK
     Route: 065
  141. TADALAFIL AL [Concomitant]
     Indication: Product used for unknown indication
     Dosage: UNK
     Route: 065
  142. TADALAFIL AL [Concomitant]
     Indication: Product used for unknown indication
     Dosage: UNK
     Route: 065
  143. TADALAFIL AL [Concomitant]
     Indication: Product used for unknown indication
     Dosage: UNK
     Route: 065
  144. TADALAFIL AL [Concomitant]
     Indication: Product used for unknown indication
     Dosage: UNK
     Route: 065
  145. TADALAFIL AL [Concomitant]
     Indication: Product used for unknown indication
     Dosage: UNK
     Route: 065
  146. TADALAFIL AL [Concomitant]
     Indication: Product used for unknown indication
     Dosage: UNK, QD, (1-0-0)
     Route: 065
  147. TADALAFIL AL [Concomitant]
     Indication: Product used for unknown indication
     Dosage: UNK
     Route: 065
  148. TADALAFIL AL [Concomitant]
     Indication: Product used for unknown indication
     Dosage: UNK
     Route: 065
  149. TADALAFIL AL [Concomitant]
     Indication: Product used for unknown indication
     Dosage: UNK
     Route: 065
  150. TADALAFIL AL [Concomitant]
     Indication: Product used for unknown indication
     Dosage: UNK
     Route: 065
  151. TADALAFIL AL [Concomitant]
     Indication: Product used for unknown indication
     Dosage: UNK, QD,  (1-0-0)
     Route: 065
  152. TADALAFIL AL [Concomitant]
     Indication: Product used for unknown indication
     Dosage: UNK
     Route: 065
  153. TADALAFIL AL [Concomitant]
     Indication: Product used for unknown indication
     Dosage: UNK, QD,  (1-0-0)
     Route: 065
  154. TADALAFIL AL [Concomitant]
     Indication: Product used for unknown indication
     Dosage: UNK, QD, (1-0-0)
     Route: 065
  155. TADALAFIL AL [Concomitant]
     Indication: Product used for unknown indication
     Dosage: UNK
     Route: 065
  156. TADALAFIL AL [Concomitant]
     Indication: Product used for unknown indication
     Dosage: UNK UNK, QD (1-0-0)
     Route: 065
  157. TADALAFIL AL [Concomitant]
     Indication: Product used for unknown indication
     Dosage: UNK UNK, QD (1-0-0)
     Route: 065
  158. TADALAFIL AL [Concomitant]
     Indication: Product used for unknown indication
     Dosage: UNK, QD,  (1-0-0)
     Route: 065
  159. TADALAFIL AL [Concomitant]
     Indication: Product used for unknown indication
     Dosage: UNK
     Route: 065
  160. TADALAFIL AL [Concomitant]
     Indication: Product used for unknown indication
     Dosage: UNK, QD, (1-0-0)
     Route: 065
  161. TADALAFIL AL [Concomitant]
     Indication: Product used for unknown indication
     Dosage: UNK, QD (1-0-0)
     Route: 065
  162. TADALAFIL AL [Concomitant]
     Indication: Product used for unknown indication
     Dosage: UNK
     Route: 065
  163. TADALAFIL AL [Concomitant]
     Indication: Product used for unknown indication
     Dosage: UNK, QD,(1-0-0)
     Route: 065
  164. TADALAFIL AL [Concomitant]
     Indication: Product used for unknown indication
     Dosage: UNK
     Route: 065
  165. TADALAFIL AL [Concomitant]
     Indication: Product used for unknown indication
     Dosage: UNK
     Route: 065
  166. TADALAFIL AL [Concomitant]
     Indication: Product used for unknown indication
     Dosage: UNK
     Route: 065
  167. TADALAFIL AL [Concomitant]
     Indication: Product used for unknown indication
     Dosage: UNK
     Route: 065
  168. TADALAFIL AL [Concomitant]
     Indication: Product used for unknown indication
     Dosage: UNK
     Route: 065
  169. TADALAFIL AL [Concomitant]
     Indication: Product used for unknown indication
     Dosage: UNK
     Route: 065
  170. TADALAFIL AL [Concomitant]
     Indication: Product used for unknown indication
     Dosage: UNK
     Route: 065
  171. TADALAFIL AL [Concomitant]
     Indication: Product used for unknown indication
     Dosage: UNK
     Route: 065
  172. TADALAFIL AL [Concomitant]
     Indication: Product used for unknown indication
     Dosage: UNK
     Route: 065
  173. TADALAFIL AL [Concomitant]
     Indication: Product used for unknown indication
     Dosage: UNK, QD,(1-0-0)
     Route: 065
  174. TADALAFIL AL [Concomitant]
     Indication: Product used for unknown indication
     Dosage: UNK, QD,  (1-0-0)
     Route: 065
  175. TADALAFIL AL [Concomitant]
     Indication: Product used for unknown indication
     Dosage: UNK, QD,(1-0-0)
     Route: 065
  176. TADALAFIL AL [Concomitant]
     Indication: Product used for unknown indication
     Dosage: UNK, QD (1-0-0)
     Route: 065
  177. COSENTYX [Suspect]
     Active Substance: SECUKINUMAB
     Indication: Psoriatic arthropathy
     Dosage: 300 MG, QMO
     Route: 058
     Dates: start: 20160112, end: 20160119
  178. SIMVASTATIN [Suspect]
     Active Substance: SIMVASTATIN
     Indication: Product used for unknown indication
     Dosage: 20 MG, QD (20 MG, ONCE DAILY (0-0-1)
     Route: 065
  179. METRONIDAZOLE [Concomitant]
     Active Substance: METRONIDAZOLE
     Indication: Gastrointestinal inflammation
     Dosage: UNK, QD (0-0-1)
     Route: 065
  180. METRONIDAZOLE [Concomitant]
     Active Substance: METRONIDAZOLE
     Indication: Gastrointestinal inflammation
     Dosage: UNK, QD (0-0-1)
     Route: 065
  181. METRONIDAZOLE [Concomitant]
     Active Substance: METRONIDAZOLE
     Indication: Gastrointestinal inflammation
     Dosage: UNK, QD UNK, TID (1-1-1 UP TO AND INCLUDING 15/12/2022)
     Route: 065
  182. METRONIDAZOLE [Concomitant]
     Active Substance: METRONIDAZOLE
     Indication: Gastrointestinal inflammation
     Dosage: UNK UNKNOWN FREQ. (1-1-1 UP TO AND INCLUDING 15/12/2022)
     Route: 065
  183. METRONIDAZOLE [Concomitant]
     Active Substance: METRONIDAZOLE
     Indication: Gastrointestinal inflammation
     Dosage: UNK UNKNOWN FREQ. (1-1-1 UP TO AND INCLUDING 15/12/2022)
     Route: 065
  184. METRONIDAZOLE [Concomitant]
     Active Substance: METRONIDAZOLE
     Indication: Gastrointestinal inflammation
     Dosage: UNK UNKNOWN FREQ. (1-1-1 UP TO AND INCLUDING 15/12/2022)
     Route: 065
  185. METRONIDAZOLE [Concomitant]
     Active Substance: METRONIDAZOLE
     Indication: Gastrointestinal inflammation
     Dosage: UNK,UNK
     Route: 065
  186. METRONIDAZOLE [Concomitant]
     Active Substance: METRONIDAZOLE
     Indication: Gastrointestinal inflammation
     Dosage: UNK,UNK (1-1-1 UP TO AND INCLUDING 15/12/2022)
     Route: 065
  187. METRONIDAZOLE [Concomitant]
     Active Substance: METRONIDAZOLE
     Indication: Gastrointestinal inflammation
     Dosage: UNK,UNK (1-1-1 UP TO AND INCLUDING 15/12/2022)
     Route: 065
  188. METRONIDAZOLE [Concomitant]
     Active Substance: METRONIDAZOLE
     Indication: Gastrointestinal inflammation
     Route: 065
  189. METRONIDAZOLE [Concomitant]
     Active Substance: METRONIDAZOLE
     Indication: Gastrointestinal inflammation
     Dosage: UNK UNKNOWN FREQ. (1-1-1 UP TO AND INCLUDING 15/12/2022)
     Route: 065
  190. METRONIDAZOLE [Concomitant]
     Active Substance: METRONIDAZOLE
     Indication: Gastrointestinal inflammation
     Dosage: UNK, UNK
     Route: 065
  191. METRONIDAZOLE [Concomitant]
     Active Substance: METRONIDAZOLE
     Indication: Gastrointestinal inflammation
     Dosage: UNK UNKNOWN FREQ. (1-1-1 UP TO AND INCLUDING 15/12/2022)
     Route: 065
  192. METRONIDAZOLE [Concomitant]
     Active Substance: METRONIDAZOLE
     Indication: Gastrointestinal inflammation
     Dosage: UNK, QD
     Route: 065
  193. METRONIDAZOLE [Concomitant]
     Active Substance: METRONIDAZOLE
     Indication: Gastrointestinal inflammation
     Dosage: UNK (1-1-1 UP TO AND INCLUDING 15/12/2022)
     Route: 065
  194. METRONIDAZOLE [Concomitant]
     Active Substance: METRONIDAZOLE
     Indication: Gastrointestinal inflammation
     Dosage: UNK UNKNOWN FREQ. (1-1-1 UP TO AND INCLUDING 15/12/2022)
     Route: 065
  195. METRONIDAZOLE [Concomitant]
     Active Substance: METRONIDAZOLE
     Indication: Gastrointestinal inflammation
     Dosage: UNK,UNK
     Route: 065
  196. METRONIDAZOLE [Concomitant]
     Active Substance: METRONIDAZOLE
     Indication: Gastrointestinal inflammation
     Dosage: UNK UNK, UNKNOWN FREQ. (1-1-1 UP TO AND INCLUDING 15/12/2022)
     Route: 065
  197. METRONIDAZOLE [Concomitant]
     Active Substance: METRONIDAZOLE
     Indication: Gastrointestinal inflammation
     Dosage: UNK (1-1-1 UP TO AND INCLUDING 15/12/2022)
     Route: 065
  198. METRONIDAZOLE [Concomitant]
     Active Substance: METRONIDAZOLE
     Indication: Gastrointestinal inflammation
     Dosage: UNK (1-1-1 UP TO AND INCLUDING 15/12/2022)
     Route: 065
  199. METRONIDAZOLE [Concomitant]
     Active Substance: METRONIDAZOLE
     Indication: Gastrointestinal inflammation
     Dosage: UNK, UNK
     Route: 065
  200. METRONIDAZOLE [Concomitant]
     Active Substance: METRONIDAZOLE
     Indication: Gastrointestinal inflammation
     Dosage: UNK,UNK
     Route: 065
  201. METRONIDAZOLE [Concomitant]
     Active Substance: METRONIDAZOLE
     Indication: Gastrointestinal inflammation
     Dosage: UNK, UNK
  202. METRONIDAZOLE [Concomitant]
     Active Substance: METRONIDAZOLE
     Indication: Gastrointestinal inflammation
     Dosage: UNK, QD
  203. METRONIDAZOLE [Concomitant]
     Active Substance: METRONIDAZOLE
     Indication: Gastrointestinal inflammation
     Dosage: UNK UNKNOWN FREQ. (1-1-1 UP TO AND INCLUDING 15/12/2022)
  204. METRONIDAZOLE [Concomitant]
     Active Substance: METRONIDAZOLE
     Indication: Gastrointestinal inflammation
     Dosage: UNK UNKNOWN FREQ. (1-1-1 UP TO AND INCLUDING 15/12/2022)
  205. METRONIDAZOLE [Concomitant]
     Active Substance: METRONIDAZOLE
     Indication: Gastrointestinal inflammation
     Dosage: UNK UNK, UNKNOWN FREQ. (1-1-1 UP TO AND INCLUDING 15/12/2022)
  206. METRONIDAZOLE [Concomitant]
     Active Substance: METRONIDAZOLE
     Indication: Gastrointestinal inflammation
     Dosage: UNK, QD
  207. METRONIDAZOLE [Concomitant]
     Active Substance: METRONIDAZOLE
     Indication: Gastrointestinal inflammation
     Dosage: UNK UNKNOWN FREQ. (1-1-1 UP TO AND INCLUDING 15/12/2022)
  208. METRONIDAZOLE [Concomitant]
     Active Substance: METRONIDAZOLE
     Indication: Gastrointestinal inflammation
     Dosage: UNK (1-1-1 UP TO AND INCLUDING 15/12/2022)
  209. METRONIDAZOLE [Concomitant]
     Active Substance: METRONIDAZOLE
     Indication: Gastrointestinal inflammation
     Dosage: UNK UNKNOWN FREQ. (1-1-1 UP TO AND INCLUDING 15/12/2022)
     Route: 065
  210. METRONIDAZOLE [Concomitant]
     Active Substance: METRONIDAZOLE
     Indication: Gastrointestinal inflammation
     Dosage: UNK,UNK
     Route: 065
  211. METRONIDAZOLE [Concomitant]
     Active Substance: METRONIDAZOLE
     Indication: Gastrointestinal inflammation
     Dosage: UNK, QD
     Route: 065
  212. METRONIDAZOLE [Concomitant]
     Active Substance: METRONIDAZOLE
     Indication: Gastrointestinal inflammation
     Dosage: UNK, QD (0-0-1)
     Route: 065
  213. METRONIDAZOLE [Concomitant]
     Active Substance: METRONIDAZOLE
     Indication: Gastrointestinal inflammation
     Dosage: UNK (1-1-1 UP TO AND INCLUDING 15/12/2022)
     Route: 065
  214. METRONIDAZOLE [Concomitant]
     Active Substance: METRONIDAZOLE
     Indication: Gastrointestinal inflammation
     Dosage: UNK, QD
     Route: 065
  215. METRONIDAZOLE [Concomitant]
     Active Substance: METRONIDAZOLE
     Indication: Gastrointestinal inflammation
     Dosage: UNK, QD
     Route: 065
  216. METRONIDAZOLE [Concomitant]
     Active Substance: METRONIDAZOLE
     Indication: Gastrointestinal inflammation
     Dosage: UNK UNKNOWN FREQ. (1-1-1 UP TO AND INCLUDING 15/12/2022)
     Route: 065
  217. METRONIDAZOLE [Concomitant]
     Active Substance: METRONIDAZOLE
     Indication: Gastrointestinal inflammation
     Dosage: UNK UNK, UNKNOWN FREQ. (1-1-1 UP TO AND INCLUDING 15/12/2022)
     Route: 065
  218. METRONIDAZOLE [Concomitant]
     Active Substance: METRONIDAZOLE
     Indication: Gastrointestinal inflammation
     Dosage: UNK (1-1-1 UP TO AND INCLUDING 15/12/2022)
     Route: 065
  219. METRONIDAZOLE [Concomitant]
     Active Substance: METRONIDAZOLE
     Indication: Gastrointestinal inflammation
     Dosage: UNK (1-1-1 UP TO AND INCLUDING 15/12/2022)
     Route: 065
  220. METRONIDAZOLE [Concomitant]
     Active Substance: METRONIDAZOLE
     Indication: Gastrointestinal inflammation
     Dosage: UNKUNK,UNK
     Route: 065
  221. METRONIDAZOLE [Concomitant]
     Active Substance: METRONIDAZOLE
     Indication: Gastrointestinal inflammation
     Dosage: UNK UNK, UNKNOWN FREQ. (1-1-1 UP TO AND INCLUDING 15/12/2022)
     Route: 065
  222. METRONIDAZOLE [Concomitant]
     Active Substance: METRONIDAZOLE
     Indication: Gastrointestinal inflammation
     Dosage: UNK UNKNOWN FREQ. (1-1-1 UP TO AND INCLUDING 15/12/2022)
     Route: 065
  223. METRONIDAZOLE [Concomitant]
     Active Substance: METRONIDAZOLE
     Indication: Gastrointestinal inflammation
     Dosage: UNK UNKNOWN FREQ. (1-1-1 UP TO AND INCLUDING 15/12/2022)
     Route: 065
  224. METRONIDAZOLE [Concomitant]
     Active Substance: METRONIDAZOLE
     Indication: Gastrointestinal inflammation
     Dosage: UNK, UNK
     Route: 065
  225. METRONIDAZOLE [Concomitant]
     Active Substance: METRONIDAZOLE
     Indication: Gastrointestinal inflammation
     Dosage: UNK,UNK
     Route: 065
  226. METRONIDAZOLE [Concomitant]
     Active Substance: METRONIDAZOLE
     Indication: Gastrointestinal inflammation
     Dosage: UNK UNK, UNKNOWN FREQ. (1-1-1 UP TO AND INCLUDING 15/12/2022)
     Route: 065
  227. METRONIDAZOLE [Concomitant]
     Active Substance: METRONIDAZOLE
     Indication: Gastrointestinal inflammation
     Dosage: UNK,UNK
     Route: 065
  228. METRONIDAZOLE [Concomitant]
     Active Substance: METRONIDAZOLE
     Indication: Gastrointestinal inflammation
     Dosage: UNK UNK, UNKNOWN FREQ. (1-1-1 UP TO AND INCLUDING 15/12/2022)
     Route: 065
  229. METRONIDAZOLE [Concomitant]
     Active Substance: METRONIDAZOLE
     Indication: Gastrointestinal inflammation
     Dosage: UNK (1-1-1 UP TO AND INCLUDING 15/12/2022)
     Route: 065
  230. METRONIDAZOLE [Concomitant]
     Active Substance: METRONIDAZOLE
     Indication: Gastrointestinal inflammation
     Dosage: UNK UNKNOWN FREQ. (1-1-1 UP TO AND INCLUDING 15/12/2022)
     Route: 065
  231. METRONIDAZOLE [Concomitant]
     Active Substance: METRONIDAZOLE
     Indication: Gastrointestinal inflammation
     Dosage: UNK, QD
     Route: 065
  232. METRONIDAZOLE [Concomitant]
     Active Substance: METRONIDAZOLE
     Indication: Gastrointestinal inflammation
     Dosage: UNK,UNK
     Route: 065
  233. METRONIDAZOLE [Concomitant]
     Active Substance: METRONIDAZOLE
     Indication: Gastrointestinal inflammation
     Dosage: UNK UNK, UNKNOWN FREQ. (1-1-1 UP TO AND INCLUDING 15/12/2022)
     Route: 065
  234. METRONIDAZOLE [Concomitant]
     Active Substance: METRONIDAZOLE
     Indication: Gastrointestinal inflammation
     Dosage: UNK, QD
     Route: 065
  235. METRONIDAZOLE [Concomitant]
     Active Substance: METRONIDAZOLE
     Indication: Gastrointestinal inflammation
     Dosage: UNK UNKNOWN FREQ. (1-1-1 UP TO AND INCLUDING 15/12/2022)
     Route: 065
  236. METRONIDAZOLE [Concomitant]
     Active Substance: METRONIDAZOLE
     Indication: Gastrointestinal inflammation
     Dosage: UNK,UNK
     Route: 065
  237. METRONIDAZOLE [Concomitant]
     Active Substance: METRONIDAZOLE
     Indication: Gastrointestinal inflammation
     Dosage: UNK, QD
     Route: 065
  238. METRONIDAZOLE [Concomitant]
     Active Substance: METRONIDAZOLE
     Indication: Gastrointestinal inflammation
     Dosage: UNK,UNK
     Route: 065
  239. METRONIDAZOLE [Concomitant]
     Active Substance: METRONIDAZOLE
     Indication: Gastrointestinal inflammation
     Dosage: UNK,UNK
     Route: 065
  240. METRONIDAZOLE [Concomitant]
     Active Substance: METRONIDAZOLE
     Indication: Gastrointestinal inflammation
     Dosage: UNK UNKNOWN FREQ. (1-1-1 UP TO AND INCLUDING 15/12/2022)
     Route: 065
  241. AMOXICILLIN\CLAVULANIC ACID [Concomitant]
     Active Substance: AMOXICILLIN\CLAVULANIC ACID
     Indication: Gastrointestinal inflammation
     Dosage: UNK, QD
     Route: 065
  242. AMOXICILLIN\CLAVULANIC ACID [Concomitant]
     Active Substance: AMOXICILLIN\CLAVULANIC ACID
     Indication: Gastrointestinal inflammation
     Dosage: UNK (1-0-0)
     Route: 065
  243. AMOXICILLIN\CLAVULANIC ACID [Concomitant]
     Active Substance: AMOXICILLIN\CLAVULANIC ACID
     Indication: Gastrointestinal inflammation
     Dosage: UNK, QD
     Route: 065
  244. AMOXICILLIN\CLAVULANIC ACID [Concomitant]
     Active Substance: AMOXICILLIN\CLAVULANIC ACID
     Indication: Gastrointestinal inflammation
     Dosage: UNK, TID
     Route: 065
  245. AMOXICILLIN\CLAVULANIC ACID [Concomitant]
     Active Substance: AMOXICILLIN\CLAVULANIC ACID
     Indication: Gastrointestinal inflammation
     Dosage: UNK, QD
     Route: 065
  246. AMOXICILLIN\CLAVULANIC ACID [Concomitant]
     Active Substance: AMOXICILLIN\CLAVULANIC ACID
     Indication: Gastrointestinal inflammation
     Dosage: UNK (UNK UNK, QD, (1-0-0))
     Route: 065
  247. AMOXICILLIN\CLAVULANIC ACID [Concomitant]
     Active Substance: AMOXICILLIN\CLAVULANIC ACID
     Indication: Gastrointestinal inflammation
     Dosage: UNK, QD
     Route: 065
  248. AMOXICILLIN\CLAVULANIC ACID [Concomitant]
     Active Substance: AMOXICILLIN\CLAVULANIC ACID
     Indication: Gastrointestinal inflammation
     Dosage: UNK, QD
     Route: 065
  249. AMOXICILLIN\CLAVULANIC ACID [Concomitant]
     Active Substance: AMOXICILLIN\CLAVULANIC ACID
     Indication: Gastrointestinal inflammation
     Dosage: UNK, QD
     Route: 065
  250. AMOXICILLIN\CLAVULANIC ACID [Concomitant]
     Active Substance: AMOXICILLIN\CLAVULANIC ACID
     Indication: Gastrointestinal inflammation
     Dosage: UNK, QD
     Route: 065
  251. AMOXICILLIN\CLAVULANIC ACID [Concomitant]
     Active Substance: AMOXICILLIN\CLAVULANIC ACID
     Indication: Gastrointestinal inflammation
     Dosage: UNK (1-0-0)
     Route: 065
  252. AMOXICILLIN\CLAVULANIC ACID [Concomitant]
     Active Substance: AMOXICILLIN\CLAVULANIC ACID
     Indication: Gastrointestinal inflammation
     Dosage: UNK (1-0-0)
     Route: 065
  253. AMOXICILLIN\CLAVULANIC ACID [Concomitant]
     Active Substance: AMOXICILLIN\CLAVULANIC ACID
     Indication: Gastrointestinal inflammation
     Dosage: UNK, QD
     Route: 065
  254. AMOXICILLIN\CLAVULANIC ACID [Concomitant]
     Active Substance: AMOXICILLIN\CLAVULANIC ACID
     Indication: Gastrointestinal inflammation
     Dosage: UNK, QD
     Route: 065
  255. AMOXICILLIN\CLAVULANIC ACID [Concomitant]
     Active Substance: AMOXICILLIN\CLAVULANIC ACID
     Indication: Gastrointestinal inflammation
     Dosage: UNK (1-0-0)
     Route: 065
  256. AMOXICILLIN\CLAVULANIC ACID [Concomitant]
     Active Substance: AMOXICILLIN\CLAVULANIC ACID
     Indication: Gastrointestinal inflammation
     Dosage: UNK, QD
     Route: 065
  257. AMOXICILLIN\CLAVULANIC ACID [Concomitant]
     Active Substance: AMOXICILLIN\CLAVULANIC ACID
     Indication: Gastrointestinal inflammation
     Dosage: UNK, QD
     Route: 065
  258. AMOXICILLIN\CLAVULANIC ACID [Concomitant]
     Active Substance: AMOXICILLIN\CLAVULANIC ACID
     Indication: Gastrointestinal inflammation
     Dosage: UNK, QD
     Route: 065
  259. AMOXICILLIN\CLAVULANIC ACID [Concomitant]
     Active Substance: AMOXICILLIN\CLAVULANIC ACID
     Indication: Gastrointestinal inflammation
     Dosage: UNK, QD
     Route: 065
  260. AMOXICILLIN\CLAVULANIC ACID [Concomitant]
     Active Substance: AMOXICILLIN\CLAVULANIC ACID
     Indication: Gastrointestinal inflammation
     Dosage: UNK (1-0-0)
     Route: 065
  261. AMOXICILLIN\CLAVULANIC ACID [Concomitant]
     Active Substance: AMOXICILLIN\CLAVULANIC ACID
     Indication: Gastrointestinal inflammation
     Dosage: UNK, QD
     Route: 065
  262. AMOXICILLIN\CLAVULANIC ACID [Concomitant]
     Active Substance: AMOXICILLIN\CLAVULANIC ACID
     Indication: Gastrointestinal inflammation
     Dosage: UNK (1-0-0)
     Route: 065
  263. AMOXICILLIN\CLAVULANIC ACID [Concomitant]
     Active Substance: AMOXICILLIN\CLAVULANIC ACID
     Indication: Gastrointestinal inflammation
     Dosage: UNK, QD
     Route: 065
  264. CLOPIDOGREL [Concomitant]
     Active Substance: CLOPIDOGREL BISULFATE
     Indication: Product used for unknown indication
     Dosage: 40 MG, (1-0-1, THEN 1-0-0 FOR 2 WEEKS)
     Route: 065
  265. NI LI AN [Concomitant]
     Indication: Product used for unknown indication
     Dosage: UNK, QD UNK, BID (1-0-1)
     Route: 065
  266. NI LI AN [Concomitant]
     Indication: Product used for unknown indication
     Dosage: UNK, Q12H (UNK, Q12H DOSE DESCRIPTION : UNK)
     Route: 065
  267. NI LI AN [Concomitant]
     Indication: Product used for unknown indication
     Dosage: UNK, BID (1-0-1)
     Route: 065
  268. NI LI AN [Concomitant]
     Indication: Product used for unknown indication
     Dosage: UNK, Q12H (UNK, Q12H DOSE DESCRIPTION : UNK)
     Route: 065
  269. NI LI AN [Concomitant]
     Indication: Product used for unknown indication
     Dosage: UNK, BID  (1-0-1)
     Route: 065
  270. NI LI AN [Concomitant]
     Indication: Product used for unknown indication
     Dosage: UNK, Q12H (UNK, Q12H DOSE DESCRIPTION : UNK)
     Route: 065
  271. NI LI AN [Concomitant]
     Indication: Product used for unknown indication
     Dosage: UNK UNK, BID  (1-0-1)
     Route: 065
  272. NI LI AN [Concomitant]
     Indication: Product used for unknown indication
     Dosage: UNK, Q12H (UNK, Q12H DOSE DESCRIPTION : UNK)
     Route: 065
  273. NI LI AN [Concomitant]
     Indication: Product used for unknown indication
     Dosage: UNK, Q12H (UNK, Q12H DOSE DESCRIPTION : UNK)
     Route: 065
  274. NI LI AN [Concomitant]
     Indication: Product used for unknown indication
     Dosage: UNK, BID (1-0-1)
     Route: 065
  275. NI LI AN [Concomitant]
     Indication: Product used for unknown indication
     Dosage: UNK, Q12H
     Route: 065
  276. NI LI AN [Concomitant]
     Indication: Product used for unknown indication
     Dosage: UNK, Q12H
     Route: 065
  277. NI LI AN [Concomitant]
     Indication: Product used for unknown indication
     Dosage: UNK, BID  (1-0-1)
     Route: 065
  278. NI LI AN [Concomitant]
     Indication: Product used for unknown indication
     Dosage: UNK UNK, BID (1-0-1)
     Route: 065
  279. NI LI AN [Concomitant]
     Indication: Product used for unknown indication
     Dosage: UNK, Q12H
     Route: 065
  280. NI LI AN [Concomitant]
     Indication: Product used for unknown indication
     Dosage: UNK, Q12H
     Route: 065
  281. NI LI AN [Concomitant]
     Indication: Product used for unknown indication
     Dosage: UNK, BID (1-0-1)
     Route: 065
  282. NI LI AN [Concomitant]
     Indication: Product used for unknown indication
     Dosage: UNK, Q12H
     Route: 065
  283. NI LI AN [Concomitant]
     Indication: Product used for unknown indication
     Dosage: UNK UNK, BID (1-0-1)
     Route: 065
  284. NI LI AN [Concomitant]
     Indication: Product used for unknown indication
     Dosage: UNK UNK, BID (1-0-1)
     Route: 065
  285. NI LI AN [Concomitant]
     Indication: Product used for unknown indication
     Dosage: UNK, Q12H (UNK, Q12H DOSE DESCRIPTION : UNK)
     Route: 065
  286. NI LI AN [Concomitant]
     Indication: Product used for unknown indication
     Dosage: UNK UNK, BID  (1-0-1)
     Route: 065
  287. NI LI AN [Concomitant]
     Indication: Product used for unknown indication
     Dosage: UNK, QD, BID (1-0-1)
     Route: 065
  288. NI LI AN [Concomitant]
     Indication: Product used for unknown indication
     Dosage: UNK, Q12H
     Route: 065
  289. NI LI AN [Concomitant]
     Indication: Product used for unknown indication
     Dosage: UNK UNK, BID (1-0-1)
     Route: 065
  290. NI LI AN [Concomitant]
     Indication: Product used for unknown indication
     Dosage: UNK, Q12H (UNK, Q12H DOSE DESCRIPTION : UNK)
     Route: 065
  291. NI LI AN [Concomitant]
     Indication: Product used for unknown indication
     Dosage: UNK UNK, BID  (1-0-1)
     Route: 065
  292. NI LI AN [Concomitant]
     Indication: Product used for unknown indication
     Dosage: UNK UNK, BID (1-0-1)
     Route: 065
  293. NI LI AN [Concomitant]
     Indication: Product used for unknown indication
     Dosage: UNK UNK, BID  (1-0-1)
     Route: 065
  294. NI LI AN [Concomitant]
     Indication: Product used for unknown indication
     Dosage: UNK, Q12H
     Route: 065
  295. NI LI AN [Concomitant]
     Indication: Product used for unknown indication
     Dosage: UNK UNK, BID  (1-0-1)
     Route: 065
  296. NI LI AN [Concomitant]
     Indication: Product used for unknown indication
     Dosage: UNK, Q12H, Q12H (UNK, Q12H DOSE DESCRIPTION : UNK)
     Route: 065
  297. NI LI AN [Concomitant]
     Indication: Product used for unknown indication
     Dosage: UNK, Q12H (UNK, Q12H DOSE DESCRIPTION : UNK)
     Route: 065
  298. NI LI AN [Concomitant]
     Indication: Product used for unknown indication
     Dosage: UNK, Q12H (UNK, Q12H DOSE DESCRIPTION : UNK)
     Route: 065
  299. NI LI AN [Concomitant]
     Indication: Product used for unknown indication
     Dosage: UNK, BID (1-0-1)
     Route: 065
  300. NI LI AN [Concomitant]
     Indication: Product used for unknown indication
     Dosage: UNK, Q12H
     Route: 065
  301. NI LI AN [Concomitant]
     Indication: Product used for unknown indication
     Dosage: UNK, Q12H
     Route: 065
  302. NI LI AN [Concomitant]
     Indication: Product used for unknown indication
     Dosage: UNK UNK, BID (1-0-1)
     Route: 065
  303. NI LI AN [Concomitant]
     Indication: Product used for unknown indication
     Dosage: UNK, Q12H
     Route: 065
  304. NI LI AN [Concomitant]
     Indication: Product used for unknown indication
     Dosage: UNK, Q12H (UNK, Q12H DOSE DESCRIPTION : UNK)
     Route: 065
  305. NI LI AN [Concomitant]
     Indication: Product used for unknown indication
     Dosage: UNK, Q12H, Q12H (UNK, Q12H DOSE DESCRIPTION : UNK)
     Route: 065
  306. NI LI AN [Concomitant]
     Indication: Product used for unknown indication
     Dosage: UNK, Q12H
     Route: 065
  307. NI LI AN [Concomitant]
     Indication: Product used for unknown indication
     Dosage: UNK, Q12H
     Route: 065
  308. NI LI AN [Concomitant]
     Indication: Product used for unknown indication
     Dosage: UNK, QD, BID (1-0-1)
     Route: 065
  309. NI LI AN [Concomitant]
     Indication: Product used for unknown indication
     Dosage: UNK, QD, BID (1-0-1)
     Route: 065
  310. NI LI AN [Concomitant]
     Indication: Product used for unknown indication
     Dosage: UNK, Q12H
     Route: 065
  311. NI LI AN [Concomitant]
     Indication: Product used for unknown indication
     Dosage: UNK, BID (1-0-1)
     Route: 065
  312. NI LI AN [Concomitant]
     Indication: Product used for unknown indication
     Dosage: UNK UNK, BID (1-0-1)
     Route: 065
  313. NI LI AN [Concomitant]
     Indication: Product used for unknown indication
     Dosage: UNK, Q12H (UNK, Q12H DOSE DESCRIPTION : UNK)
     Route: 065
  314. NI LI AN [Concomitant]
     Indication: Product used for unknown indication
     Dosage: UNK UNK, BID (1-0-1)
     Route: 065
  315. NI LI AN [Concomitant]
     Indication: Product used for unknown indication
     Dosage: UNK UNK, BID  (1-0-1)
     Route: 065
  316. NI LI AN [Concomitant]
     Indication: Product used for unknown indication
     Dosage: UNK, Q12H
     Route: 065
  317. NI LI AN [Concomitant]
     Indication: Product used for unknown indication
     Dosage: UNK, Q12H
     Route: 065
  318. NI LI AN [Concomitant]
     Indication: Product used for unknown indication
     Dosage: UNK, Q12H (UNK, Q12H DOSE DESCRIPTION : UNK)
     Route: 065
  319. NI LI AN [Concomitant]
     Indication: Product used for unknown indication
     Dosage: UNK, BID (1-0-1)
     Route: 065
  320. NI LI AN [Concomitant]
     Indication: Product used for unknown indication
     Dosage: UNK, Q12H
     Route: 065
  321. NI LI AN [Concomitant]
     Indication: Product used for unknown indication
     Dosage: UNK UNK, BID  (1-0-1)
     Route: 065
  322. NI LI AN [Concomitant]
     Indication: Product used for unknown indication
     Dosage: UNK, BID  (1-0-1)
     Route: 065
  323. NI LI AN [Concomitant]
     Indication: Product used for unknown indication
     Dosage: UNK, Q12H
     Route: 065
  324. NI LI AN [Concomitant]
     Indication: Product used for unknown indication
     Dosage: UNK, Q12H (UNK, Q12H DOSE DESCRIPTION : UNK)
     Route: 065
  325. NI LI AN [Concomitant]
     Indication: Product used for unknown indication
     Dosage: UNK UNK, BID (1-0-1)
     Route: 065
  326. NI LI AN [Concomitant]
     Indication: Product used for unknown indication
     Dosage: UNK UNK, BID  (1-0-1)
     Route: 065
  327. NI LI AN [Concomitant]
     Indication: Product used for unknown indication
     Dosage: UNK, Q12H (UNK, Q12H DOSE DESCRIPTION : UNK)
     Route: 065
  328. NI LI AN [Concomitant]
     Indication: Product used for unknown indication
     Dosage: UNK, BID (1-0-1)
     Route: 065
  329. NI LI AN [Concomitant]
     Indication: Product used for unknown indication
     Dosage: UNK, Q12H (UNK, Q12H DOSE DESCRIPTION : UNK)
     Route: 065
  330. NI LI AN [Concomitant]
     Indication: Product used for unknown indication
     Dosage: UNK UNK, BID  (1-0-1)
     Route: 065
  331. NI LI AN [Concomitant]
     Indication: Product used for unknown indication
     Dosage: UNK, Q12H (UNK, Q12H DOSE DESCRIPTION : UNK)
     Route: 065
  332. NI LI AN [Concomitant]
     Indication: Product used for unknown indication
     Dosage: UNK, Q12H
     Route: 065
  333. NI LI AN [Concomitant]
     Indication: Product used for unknown indication
     Dosage: UNK, Q12H
     Route: 065
  334. NI LI AN [Concomitant]
     Indication: Product used for unknown indication
     Dosage: UNK, Q12H (UNK, Q12H DOSE DESCRIPTION : UNK)
     Route: 065
  335. NI LI AN [Concomitant]
     Indication: Product used for unknown indication
     Dosage: UNK, Q12H (UNK, Q12H DOSE DESCRIPTION : UNK)
     Route: 065
  336. NI LI AN [Concomitant]
     Indication: Product used for unknown indication
     Dosage: UNK, Q12H
     Route: 065
  337. NI LI AN [Concomitant]
     Indication: Product used for unknown indication
     Dosage: UNK, Q12H, Q12H (UNK, Q12H DOSE DESCRIPTION : UNK)
     Route: 065
  338. NI LI AN [Concomitant]
     Indication: Product used for unknown indication
     Dosage: UNK, Q12H, Q12H (UNK, Q12H DOSE DESCRIPTION : UNK)
     Route: 065
  339. NI LI AN [Concomitant]
     Indication: Product used for unknown indication
     Dosage: UNK, Q12H
     Route: 065
  340. NI LI AN [Concomitant]
     Indication: Product used for unknown indication
     Dosage: UNK, BID  (1-0-1)
     Route: 065
  341. NI LI AN [Concomitant]
     Indication: Product used for unknown indication
     Dosage: UNK, Q12H (UNK, Q12H DOSE DESCRIPTION : UNK)
     Route: 065
  342. NI LI AN [Concomitant]
     Indication: Product used for unknown indication
     Dosage: UNK, Q12H, Q12H (UNK, Q12H DOSE DESCRIPTION : UNK)
     Route: 065
  343. NI LI AN [Concomitant]
     Indication: Product used for unknown indication
     Dosage: UNK, Q12H, Q12H (UNK, Q12H DOSE DESCRIPTION : UNK)
     Route: 065
  344. NI LI AN [Concomitant]
     Indication: Product used for unknown indication
     Dosage: UNK UNK, BID  (1-0-1)
     Route: 065
  345. NI LI AN [Concomitant]
     Indication: Product used for unknown indication
     Dosage: UNK, Q12H (UNK, Q12H DOSE DESCRIPTION : UNK)
     Route: 065
  346. NI LI AN [Concomitant]
     Indication: Product used for unknown indication
     Dosage: UNK, Q12H (UNK, Q12H DOSE DESCRIPTION : UNK)
     Route: 065
  347. NI LI AN [Concomitant]
     Indication: Product used for unknown indication
     Dosage: UNK, Q12H, Q12H (UNK, Q12H DOSE DESCRIPTION : UNK)
     Route: 065
  348. NI LI AN [Concomitant]
     Indication: Product used for unknown indication
     Dosage: UNK, Q12H (UNK, Q12H DOSE DESCRIPTION : UNK)
     Route: 065
  349. NI LI AN [Concomitant]
     Indication: Product used for unknown indication
     Dosage: UNK, Q12H (UNK, Q12H DOSE DESCRIPTION : UNK)
     Route: 065
  350. NI LI AN [Concomitant]
     Indication: Product used for unknown indication
     Dosage: UNK, Q12H (UNK, Q12H DOSE DESCRIPTION : UNK)
     Route: 065
  351. NI LI AN [Concomitant]
     Indication: Product used for unknown indication
     Dosage: UNK UNK, BID (1-0-1)
     Route: 065
  352. NI LI AN [Concomitant]
     Indication: Product used for unknown indication
     Dosage: UNK, Q12H, Q12H (UNK, Q12H DOSE DESCRIPTION : UNK)
     Route: 065
  353. NI LI AN [Concomitant]
     Indication: Product used for unknown indication
     Dosage: UNK, Q12H
     Route: 065
  354. NI LI AN [Concomitant]
     Indication: Product used for unknown indication
     Dosage: UNK, Q12H
     Route: 065
  355. NI LI AN [Concomitant]
     Indication: Product used for unknown indication
     Dosage: UNK UNK, BID  (1-0-1)
     Route: 065
  356. NI LI AN [Concomitant]
     Indication: Product used for unknown indication
     Dosage: UNK, Q12H (UNK, Q12H DOSE DESCRIPTION : UNK)
     Route: 065
  357. NI LI AN [Concomitant]
     Indication: Product used for unknown indication
     Dosage: UNK, BID  (1-0-1)
     Route: 065
  358. NI LI AN [Concomitant]
     Indication: Product used for unknown indication
     Dosage: UNK, Q12H
     Route: 065
  359. NI LI AN [Concomitant]
     Indication: Product used for unknown indication
     Dosage: UNK, Q12H (UNK, Q12H DOSE DESCRIPTION : UNK)
     Route: 065
  360. NI LI AN [Concomitant]
     Indication: Product used for unknown indication
     Dosage: UNK, Q12H
     Route: 065
  361. NI LI AN [Concomitant]
     Indication: Product used for unknown indication
     Dosage: UNK, Q12H
     Route: 065
  362. NI LI AN [Concomitant]
     Indication: Product used for unknown indication
     Dosage: UNK, BID  (1-0-1)
     Route: 065
  363. NI LI AN [Concomitant]
     Indication: Product used for unknown indication
     Dosage: UNK UNK, BID (1-0-1)
     Route: 065
  364. NI LI AN [Concomitant]
     Indication: Product used for unknown indication
     Dosage: UNK, QD, BID (1-0-1)
     Route: 065
  365. NI LI AN [Concomitant]
     Indication: Product used for unknown indication
     Dosage: UNK, Q12H
     Route: 065
  366. NI LI AN [Concomitant]
     Indication: Product used for unknown indication
     Dosage: UNK, BID (1-0-1)
     Route: 065
  367. NI LI AN [Concomitant]
     Indication: Product used for unknown indication
     Dosage: UNK UNK, BID (1-0-1)
     Route: 065
  368. NI LI AN [Concomitant]
     Indication: Product used for unknown indication
     Dosage: UNK, QD, BID (1-0-1)
     Route: 065
  369. NI LI AN [Concomitant]
     Indication: Product used for unknown indication
     Dosage: UNK, QD, BID (1-0-1)
     Route: 065
  370. NI LI AN [Concomitant]
     Indication: Product used for unknown indication
     Dosage: UNK, BID  (1-0-1)
     Route: 065
  371. NI LI AN [Concomitant]
     Indication: Product used for unknown indication
     Dosage: UNK, Q12H, Q12H (UNK, Q12H DOSE DESCRIPTION : UNK)
     Route: 065
  372. NI LI AN [Concomitant]
     Indication: Product used for unknown indication
     Dosage: UNK, Q12H (UNK, Q12H DOSE DESCRIPTION : UNK)
     Route: 065
  373. NI LI AN [Concomitant]
     Indication: Product used for unknown indication
     Dosage: UNK UNK, BID (1-0-1)
     Route: 065
  374. NI LI AN [Concomitant]
     Indication: Product used for unknown indication
     Dosage: UNK, Q12H
     Route: 065
  375. NI LI AN [Concomitant]
     Indication: Product used for unknown indication
     Dosage: UNK, Q12H
     Route: 065
  376. NI LI AN [Concomitant]
     Indication: Product used for unknown indication
     Dosage: UNK UNK, BID (1-0-1)
     Route: 065
  377. NI LI AN [Concomitant]
     Indication: Product used for unknown indication
     Dosage: UNK UNK, BID  (1-0-1)
     Route: 065
  378. NI LI AN [Concomitant]
     Indication: Product used for unknown indication
     Dosage: UNK, Q12H (UNK, Q12H DOSE DESCRIPTION : UNK)
     Route: 065
  379. NI LI AN [Concomitant]
     Indication: Product used for unknown indication
     Dosage: UNK UNK, BID (1-0-1)
     Route: 065
  380. NI LI AN [Concomitant]
     Indication: Product used for unknown indication
     Dosage: UNK UNK, BID  (1-0-1)
     Route: 065
  381. NI LI AN [Concomitant]
     Indication: Product used for unknown indication
     Dosage: UNK, QD, BID (1-0-1)
     Route: 065
  382. NI LI AN [Concomitant]
     Indication: Product used for unknown indication
     Dosage: UNK, Q12H (UNK, Q12H DOSE DESCRIPTION : UNK)
     Route: 065
  383. NI LI AN [Concomitant]
     Indication: Product used for unknown indication
     Dosage: UNK, Q12H (UNK, Q12H DOSE DESCRIPTION : UNK)
     Route: 065
  384. CANDESARTAN [Concomitant]
     Active Substance: CANDESARTAN
     Indication: Product used for unknown indication
     Dosage: UNK, Q12H (UNK, Q12H DOSE DESCRIPTION : UNK)
     Route: 065
  385. CANDESARTAN [Concomitant]
     Active Substance: CANDESARTAN
     Indication: Product used for unknown indication
     Dosage: UNK, Q12H (UNK, Q12H DOSE DESCRIPTION : UNK)
     Route: 065
  386. CANDESARTAN [Concomitant]
     Active Substance: CANDESARTAN
     Indication: Product used for unknown indication
     Dosage: UNK, Q12H (UNK, Q12H DOSE DESCRIPTION : UNK)
     Route: 065
  387. CANDESARTAN [Concomitant]
     Active Substance: CANDESARTAN
     Indication: Product used for unknown indication
     Dosage: UNK, Q12H (UNK, Q12H DOSE DESCRIPTION : UNK)
     Route: 065
  388. CANDESARTAN [Concomitant]
     Active Substance: CANDESARTAN
     Indication: Product used for unknown indication
     Dosage: UNK, QD UNK, BID (1-0-1)
     Route: 065
  389. CANDESARTAN [Concomitant]
     Active Substance: CANDESARTAN
     Indication: Product used for unknown indication
     Dosage: UNK, Q12H (UNK, Q12H DOSE DESCRIPTION : UNK)
     Route: 065
  390. CANDESARTAN [Concomitant]
     Active Substance: CANDESARTAN
     Indication: Product used for unknown indication
     Dosage: UNK, Q12H
     Route: 065
  391. CANDESARTAN [Concomitant]
     Active Substance: CANDESARTAN
     Indication: Product used for unknown indication
     Dosage: UNK, QD (UNK, QD UNK, BID (1-0-1))
     Route: 065
  392. CANDESARTAN [Concomitant]
     Active Substance: CANDESARTAN
     Indication: Product used for unknown indication
     Dosage: UNK, QD (UNK, QD UNK, BID (1-0-1))
     Route: 065
  393. CANDESARTAN [Concomitant]
     Active Substance: CANDESARTAN
     Indication: Product used for unknown indication
     Dosage: UNK, QD (UNK, QD UNK, BID (1-0-1))
     Route: 065
  394. CANDESARTAN [Concomitant]
     Active Substance: CANDESARTAN
     Indication: Product used for unknown indication
     Dosage: UNK, QD (UNK, QD UNK, BID (1-0-1))
     Route: 065
  395. CANDESARTAN [Concomitant]
     Active Substance: CANDESARTAN
     Indication: Product used for unknown indication
     Dosage: UNK, QD (UNK, QD UNK, BID (1-0-1))
     Route: 065
  396. CANDESARTAN [Concomitant]
     Active Substance: CANDESARTAN
     Indication: Product used for unknown indication
     Dosage: UNK, QD (UNK, QD UNK, BID (1-0-1))
     Route: 065
  397. CANDESARTAN [Concomitant]
     Active Substance: CANDESARTAN
     Indication: Product used for unknown indication
     Dosage: UNK, QD (UNK, QD UNK, BID (1-0-1))
     Route: 065
  398. CANDESARTAN [Concomitant]
     Active Substance: CANDESARTAN
     Indication: Product used for unknown indication
     Dosage: UNK, QD (UNK, QD UNK, BID (1-0-1))
     Route: 065
  399. CANDESARTAN [Concomitant]
     Active Substance: CANDESARTAN
     Indication: Product used for unknown indication
     Dosage: UNK, QD (UNK, QD UNK, BID (1-0-1))
     Route: 065
  400. CANDESARTAN [Concomitant]
     Active Substance: CANDESARTAN
     Indication: Product used for unknown indication
     Dosage: UNK, QD (UNK, QD UNK, BID (1-0-1))
     Route: 065
  401. CANDESARTAN [Concomitant]
     Active Substance: CANDESARTAN
     Indication: Product used for unknown indication
     Dosage: UNK, Q12H DOSE DESCRIPTION : UNK UNK, TWICE DAILY (1-0-1)
     Route: 065
  402. CANDESARTAN [Concomitant]
     Active Substance: CANDESARTAN
     Indication: Product used for unknown indication
     Dosage: UNK, QD (UNK, QD UNK, BID (1-0-1))
     Route: 065
  403. CANDESARTAN [Concomitant]
     Active Substance: CANDESARTAN
     Indication: Product used for unknown indication
     Dosage: UNK, QD
     Route: 065
  404. CANDESARTAN [Concomitant]
     Active Substance: CANDESARTAN
     Indication: Product used for unknown indication
     Dosage: UNK, QD (UNK, QD UNK, BID (1-0-1))
     Route: 065
  405. CANDESARTAN [Concomitant]
     Active Substance: CANDESARTAN
     Indication: Product used for unknown indication
     Dosage: UNK, QD (UNK, QD UNK, BID (1-0-1))
     Route: 065
  406. CANDESARTAN [Concomitant]
     Active Substance: CANDESARTAN
     Indication: Product used for unknown indication
     Dosage: UNK, QD (UNK, QD UNK, BID (1-0-1))
     Route: 065
  407. CANDESARTAN [Concomitant]
     Active Substance: CANDESARTAN
     Indication: Product used for unknown indication
     Dosage: UNK, QD (UNK, QD UNK, BID (1-0-1))
     Route: 065
  408. CANDESARTAN [Concomitant]
     Active Substance: CANDESARTAN
     Indication: Product used for unknown indication
     Dosage: UNK, QD (UNK, QD UNK, BID (1-0-1))
     Route: 065
  409. CANDESARTAN [Concomitant]
     Active Substance: CANDESARTAN
     Indication: Product used for unknown indication
     Dosage: UNK, QD (UNK, QD UNK, BID (1-0-1))
     Route: 065
  410. CANDESARTAN [Concomitant]
     Active Substance: CANDESARTAN
     Indication: Product used for unknown indication
     Dosage: UNK, QD (UNK, QD UNK, BID (1-0-1))
     Route: 065
  411. CANDESARTAN [Concomitant]
     Active Substance: CANDESARTAN
     Indication: Product used for unknown indication
     Dosage: UNK, QD (UNK, QD UNK, BID (1-0-1))
     Route: 065
  412. CANDESARTAN [Concomitant]
     Active Substance: CANDESARTAN
     Indication: Product used for unknown indication
     Dosage: UNK, QD (UNK, QD UNK, BID (1-0-1))
     Route: 065
  413. CANDESARTAN [Concomitant]
     Active Substance: CANDESARTAN
     Indication: Product used for unknown indication
     Dosage: UNK, QD (UNK, QD UNK, BID (1-0-1))
     Route: 065
  414. CANDESARTAN [Concomitant]
     Active Substance: CANDESARTAN
     Indication: Product used for unknown indication
     Dosage: UNK, QD (UNK, QD UNK, BID (1-0-1))
     Route: 065
  415. CANDESARTAN [Concomitant]
     Active Substance: CANDESARTAN
     Indication: Product used for unknown indication
     Dosage: UNK, QD (UNK, QD UNK, BID (1-0-1))
     Route: 065
  416. CANDESARTAN [Concomitant]
     Active Substance: CANDESARTAN
     Indication: Product used for unknown indication
     Dosage: UNK, QD (UNK, QD UNK, BID (1-0-1))
     Route: 065
  417. CANDESARTAN [Concomitant]
     Active Substance: CANDESARTAN
     Indication: Product used for unknown indication
     Dosage: UNK, QD (UNK, QD UNK, BID (1-0-1))
     Route: 065
  418. CANDESARTAN [Concomitant]
     Active Substance: CANDESARTAN
     Indication: Product used for unknown indication
     Dosage: UNK, QD (UNK, QD UNK, BID (1-0-1))
     Route: 065
  419. CANDESARTAN [Concomitant]
     Active Substance: CANDESARTAN
     Indication: Product used for unknown indication
     Dosage: UNK, QD (UNK, QD UNK, BID (1-0-1))
     Route: 065
  420. CANDESARTAN [Concomitant]
     Active Substance: CANDESARTAN
     Indication: Product used for unknown indication
     Dosage: UNK, QD (UNK, QD UNK, BID (1-0-1))
     Route: 065
  421. CANDESARTAN [Concomitant]
     Active Substance: CANDESARTAN
     Indication: Product used for unknown indication
     Dosage: UNK, QD (UNK, QD UNK, BID (1-0-1))
     Route: 065
  422. CANDESARTAN [Concomitant]
     Active Substance: CANDESARTAN
     Indication: Product used for unknown indication
     Dosage: UNK, QD (UNK, QD UNK, BID (1-0-1))
     Route: 065
  423. CANDESARTAN [Concomitant]
     Active Substance: CANDESARTAN
     Indication: Product used for unknown indication
     Dosage: UNK, QD (UNK, QD UNK, BID (1-0-1))
     Route: 065
  424. CANDESARTAN [Concomitant]
     Active Substance: CANDESARTAN
     Indication: Product used for unknown indication
     Dosage: UNK, QD (UNK, QD UNK, BID (1-0-1))
     Route: 065
  425. CANDESARTAN [Concomitant]
     Active Substance: CANDESARTAN
     Indication: Product used for unknown indication
     Dosage: UNK, QD (UNK, QD UNK, BID (1-0-1))
     Route: 065
  426. CANDESARTAN [Concomitant]
     Active Substance: CANDESARTAN
     Indication: Product used for unknown indication
     Dosage: UNK, QD (UNK, QD UNK, BID (1-0-1))
     Route: 065
  427. CANDESARTAN [Concomitant]
     Active Substance: CANDESARTAN
     Indication: Product used for unknown indication
     Dosage: UNK, QD (UNK, QD UNK, BID (1-0-1))
     Route: 065
  428. CANDESARTAN [Concomitant]
     Active Substance: CANDESARTAN
     Indication: Product used for unknown indication
     Dosage: UNK, QD (UNK, QD UNK, BID (1-0-1))
     Route: 065
  429. CANDESARTAN [Concomitant]
     Active Substance: CANDESARTAN
     Indication: Product used for unknown indication
     Dosage: UNK, QD (UNK, QD UNK, BID (1-0-1))
     Route: 065
  430. CANDESARTAN [Concomitant]
     Active Substance: CANDESARTAN
     Indication: Product used for unknown indication
     Dosage: UNK, QD (UNK, QD UNK, BID (1-0-1))
     Route: 065
  431. CANDESARTAN [Concomitant]
     Active Substance: CANDESARTAN
     Indication: Product used for unknown indication
     Dosage: UNK, QD (UNK, QD UNK, BID (1-0-1))
     Route: 065
  432. CANDESARTAN [Concomitant]
     Active Substance: CANDESARTAN
     Indication: Product used for unknown indication
     Dosage: UNK, QD (UNK, QD UNK, BID (1-0-1))
     Route: 065
  433. CANDESARTAN [Concomitant]
     Active Substance: CANDESARTAN
     Indication: Product used for unknown indication
     Dosage: UNK, QD (UNK, QD UNK, BID (1-0-1))
     Route: 065
  434. CANDESARTAN [Concomitant]
     Active Substance: CANDESARTAN
     Indication: Product used for unknown indication
     Dosage: UNK, QD (UNK, QD UNK, BID (1-0-1))
     Route: 065
  435. CANDESARTAN [Concomitant]
     Active Substance: CANDESARTAN
     Indication: Product used for unknown indication
     Dosage: UNK, QD (UNK, QD UNK, BID (1-0-1))
     Route: 065
  436. CANDESARTAN [Concomitant]
     Active Substance: CANDESARTAN
     Indication: Product used for unknown indication
     Dosage: UNK, QD (UNK, QD UNK, BID (1-0-1))
     Route: 065
  437. CANDESARTAN [Concomitant]
     Active Substance: CANDESARTAN
     Indication: Product used for unknown indication
     Dosage: UNK, QD (UNK, QD UNK, BID (1-0-1))
     Route: 065
  438. CANDESARTAN [Concomitant]
     Active Substance: CANDESARTAN
     Indication: Product used for unknown indication
     Dosage: UNK, QD (UNK, QD UNK, BID (1-0-1))
     Route: 065
  439. CANDESARTAN [Concomitant]
     Active Substance: CANDESARTAN
     Indication: Product used for unknown indication
     Dosage: UNK, QD (UNK, QD UNK, BID (1-0-1))
     Route: 065
  440. CANDESARTAN [Concomitant]
     Active Substance: CANDESARTAN
     Indication: Product used for unknown indication
     Dosage: UNK, QD (UNK, QD UNK, BID (1-0-1))
     Route: 065
  441. CANDESARTAN [Concomitant]
     Active Substance: CANDESARTAN
     Indication: Product used for unknown indication
     Dosage: UNK, QD (UNK, QD UNK, BID (1-0-1))
     Route: 065
  442. CANDESARTAN [Concomitant]
     Active Substance: CANDESARTAN
     Indication: Product used for unknown indication
     Dosage: UNK, QD (UNK, QD UNK, BID (1-0-1))
     Route: 065
  443. CANDESARTAN [Concomitant]
     Active Substance: CANDESARTAN
     Indication: Product used for unknown indication
     Dosage: UNK, QD (UNK, QD UNK, BID (1-0-1))
     Route: 065
  444. CANDESARTAN [Concomitant]
     Active Substance: CANDESARTAN
     Indication: Product used for unknown indication
     Dosage: UNK, QD (UNK, QD UNK, BID (1-0-1))
     Route: 065
  445. CANDESARTAN [Concomitant]
     Active Substance: CANDESARTAN
     Indication: Product used for unknown indication
     Dosage: UNK, QD (UNK, QD UNK, BID (1-0-1))
     Route: 065
  446. CANDESARTAN [Concomitant]
     Active Substance: CANDESARTAN
     Indication: Product used for unknown indication
     Dosage: UNK, QD (UNK, QD UNK, BID (1-0-1))
     Route: 065
  447. CANDESARTAN [Concomitant]
     Active Substance: CANDESARTAN
     Indication: Product used for unknown indication
     Dosage: UNK, QD (UNK, QD UNK, BID (1-0-1))
     Route: 065
  448. CANDESARTAN [Concomitant]
     Active Substance: CANDESARTAN
     Indication: Product used for unknown indication
     Dosage: UNK, QD (UNK, QD UNK, BID (1-0-1))
     Route: 065
  449. CANDESARTAN [Concomitant]
     Active Substance: CANDESARTAN
     Indication: Product used for unknown indication
     Dosage: UNK, QD (UNK, QD UNK, BID (1-0-1))
     Route: 065
  450. CANDESARTAN [Concomitant]
     Active Substance: CANDESARTAN
     Indication: Product used for unknown indication
     Dosage: UNK, QD (UNK, QD UNK, BID (1-0-1))
     Route: 065
  451. CANDESARTAN [Concomitant]
     Active Substance: CANDESARTAN
     Indication: Product used for unknown indication
     Dosage: UNK, QD (UNK, QD UNK, BID (1-0-1))
     Route: 065
  452. CANDESARTAN [Concomitant]
     Active Substance: CANDESARTAN
     Indication: Product used for unknown indication
     Dosage: UNK, QD (UNK, QD UNK, BID (1-0-1))
     Route: 065
  453. CANDESARTAN [Concomitant]
     Active Substance: CANDESARTAN
     Indication: Product used for unknown indication
     Dosage: UNK, QD (UNK, QD UNK, BID (1-0-1))
     Route: 065
  454. CANDESARTAN [Concomitant]
     Active Substance: CANDESARTAN
     Indication: Product used for unknown indication
     Dosage: UNK, QD (UNK, QD UNK, BID (1-0-1))
     Route: 065
  455. CANDESARTAN [Concomitant]
     Active Substance: CANDESARTAN
     Indication: Product used for unknown indication
     Dosage: UNK, QD (UNK, QD UNK, BID (1-0-1))
     Route: 065
  456. CANDESARTAN [Concomitant]
     Active Substance: CANDESARTAN
     Indication: Product used for unknown indication
     Dosage: UNK, QD (UNK, QD UNK, BID (1-0-1))
     Route: 065
  457. CANDESARTAN [Concomitant]
     Active Substance: CANDESARTAN
     Indication: Product used for unknown indication
     Dosage: UNK, QD (UNK, QD UNK, BID (1-0-1))
     Route: 065
  458. CANDESARTAN [Concomitant]
     Active Substance: CANDESARTAN
     Indication: Product used for unknown indication
     Dosage: UNK, QD (UNK, QD UNK, BID (1-0-1))
     Route: 065
  459. CANDESARTAN [Concomitant]
     Active Substance: CANDESARTAN
     Indication: Product used for unknown indication
     Dosage: UNK, QD (UNK, QD UNK, BID (1-0-1))
     Route: 065
  460. CANDESARTAN [Concomitant]
     Active Substance: CANDESARTAN
     Indication: Product used for unknown indication
     Dosage: UNK, QD (UNK, QD UNK, BID (1-0-1))
     Route: 065
  461. CANDESARTAN [Concomitant]
     Active Substance: CANDESARTAN
     Indication: Product used for unknown indication
     Dosage: UNK, QD (UNK, QD UNK, BID (1-0-1))
     Route: 065
  462. CANDESARTAN [Concomitant]
     Active Substance: CANDESARTAN
     Indication: Product used for unknown indication
     Dosage: UNK, QD (UNK, QD UNK, BID (1-0-1))
     Route: 065
  463. CANDESARTAN [Concomitant]
     Active Substance: CANDESARTAN
     Indication: Product used for unknown indication
     Dosage: UNK, QD (UNK, QD UNK, BID (1-0-1))
     Route: 065
  464. CANDESARTAN [Concomitant]
     Active Substance: CANDESARTAN
     Indication: Product used for unknown indication
     Dosage: UNK, Q12H
     Route: 065
  465. CANDESARTAN [Concomitant]
     Active Substance: CANDESARTAN
     Indication: Product used for unknown indication
     Dosage: UNK, Q12H
     Route: 065
  466. CANDESARTAN [Concomitant]
     Active Substance: CANDESARTAN
     Indication: Product used for unknown indication
     Dosage: UNK, Q12H
     Route: 065
  467. CANDESARTAN [Concomitant]
     Active Substance: CANDESARTAN
     Indication: Product used for unknown indication
     Dosage: UNK, Q12H
     Route: 065
  468. CANDESARTAN [Concomitant]
     Active Substance: CANDESARTAN
     Indication: Product used for unknown indication
     Dosage: UNK, Q12H
     Route: 065
  469. CANDESARTAN [Concomitant]
     Active Substance: CANDESARTAN
     Indication: Product used for unknown indication
     Dosage: UNK, Q12H
     Route: 065
  470. CANDESARTAN [Concomitant]
     Active Substance: CANDESARTAN
     Indication: Product used for unknown indication
     Dosage: UNK, Q12H
     Route: 065
  471. CANDESARTAN [Concomitant]
     Active Substance: CANDESARTAN
     Indication: Product used for unknown indication
     Dosage: UNK, Q12H (UNK, Q12H DOSE DESCRIPTION : UNK)
     Route: 065
  472. CANDESARTAN [Concomitant]
     Active Substance: CANDESARTAN
     Indication: Product used for unknown indication
     Dosage: UNK, QD (UNK, QD UNK, BID (1-0-1))
     Route: 065
  473. CANDESARTAN [Concomitant]
     Active Substance: CANDESARTAN
     Indication: Product used for unknown indication
     Dosage: UNK, QD (UNK, QD UNK, BID (1-0-1))
     Route: 065
  474. CANDESARTAN [Concomitant]
     Active Substance: CANDESARTAN
     Indication: Product used for unknown indication
     Dosage: UNK, Q12H (UNK, Q12H DOSE DESCRIPTION : UNK)
     Route: 065
  475. CANDESARTAN [Concomitant]
     Active Substance: CANDESARTAN
     Indication: Product used for unknown indication
     Dosage: UNK, QD UNK, BID (1-0-1)
     Route: 065
  476. CANDESARTAN [Concomitant]
     Active Substance: CANDESARTAN
     Indication: Product used for unknown indication
     Dosage: UNK, QD (UNK, QD UNK, BID (1-0-1))
     Route: 065
  477. CANDESARTAN [Concomitant]
     Active Substance: CANDESARTAN
     Indication: Product used for unknown indication
     Dosage: UNK, QD (UNK, QD UNK, BID (1-0-1))
     Route: 065
  478. CANDESARTAN [Concomitant]
     Active Substance: CANDESARTAN
     Indication: Product used for unknown indication
     Dosage: UNK, QD (UNK, QD UNK, BID (1-0-1))
     Route: 065
  479. CANDESARTAN [Concomitant]
     Active Substance: CANDESARTAN
     Indication: Product used for unknown indication
     Dosage: UNK, QD (UNK, QD UNK, BID (1-0-1))
     Route: 065
  480. CANDESARTAN [Concomitant]
     Active Substance: CANDESARTAN
     Indication: Product used for unknown indication
     Dosage: UNK, QD (UNK, QD UNK, BID (1-0-1))
     Route: 065
  481. CANDESARTAN [Concomitant]
     Active Substance: CANDESARTAN
     Indication: Product used for unknown indication
     Dosage: UNK, QD (UNK, QD UNK, BID (1-0-1))
     Route: 065
  482. CANDESARTAN [Concomitant]
     Active Substance: CANDESARTAN
     Indication: Product used for unknown indication
     Dosage: UNK, QD (UNK, QD UNK, BID (1-0-1))
     Route: 065
  483. CANDESARTAN [Concomitant]
     Active Substance: CANDESARTAN
     Indication: Product used for unknown indication
     Dosage: UNK, QD (UNK, QD UNK, BID (1-0-1))
     Route: 065
  484. CANDESARTAN [Concomitant]
     Active Substance: CANDESARTAN
     Indication: Product used for unknown indication
     Dosage: UNK, QD (UNK, QD UNK, BID (1-0-1))
     Route: 065
  485. CANDESARTAN [Concomitant]
     Active Substance: CANDESARTAN
     Indication: Product used for unknown indication
     Dosage: UNK, QD (UNK, QD UNK, BID (1-0-1))
     Route: 065
  486. CANDESARTAN [Concomitant]
     Active Substance: CANDESARTAN
     Indication: Product used for unknown indication
     Dosage: UNK, Q12H (UNK, Q12H DOSE DESCRIPTION : UNK)
     Route: 065
  487. CANDESARTAN [Concomitant]
     Active Substance: CANDESARTAN
     Indication: Product used for unknown indication
     Dosage: UNK, QD UNK, BID (1-0-1)
     Route: 065
  488. CANDESARTAN [Concomitant]
     Active Substance: CANDESARTAN
     Indication: Product used for unknown indication
     Dosage: UNK, Q12H
     Route: 065
  489. CANDESARTAN [Concomitant]
     Active Substance: CANDESARTAN
     Indication: Product used for unknown indication
     Dosage: UNK, Q12H
     Route: 065
  490. CANDESARTAN [Concomitant]
     Active Substance: CANDESARTAN
     Indication: Product used for unknown indication
     Dosage: UNK, Q12H (UNK, Q12H DOSE DESCRIPTION : UNK)
     Route: 065
  491. CANDESARTAN [Concomitant]
     Active Substance: CANDESARTAN
     Indication: Product used for unknown indication
     Dosage: UNK, Q12H (UNK, Q12H DOSE DESCRIPTION : UNK)
     Route: 065
  492. CANDESARTAN [Concomitant]
     Active Substance: CANDESARTAN
     Indication: Product used for unknown indication
     Dosage: UNK, QD UNK, BID (1-0-1)
     Route: 065
  493. CANDESARTAN [Concomitant]
     Active Substance: CANDESARTAN
     Indication: Product used for unknown indication
     Dosage: UNK, Q12H (UNK, Q12H DOSE DESCRIPTION : UNK)
     Route: 065
  494. CANDESARTAN [Concomitant]
     Active Substance: CANDESARTAN
     Indication: Product used for unknown indication
     Dosage: UNK, QD (UNK, QD UNK, BID (1-0-1))
     Route: 065
  495. CANDESARTAN [Concomitant]
     Active Substance: CANDESARTAN
     Indication: Product used for unknown indication
     Dosage: UNK, QD (UNK, QD UNK, BID (1-0-1))
     Route: 065
  496. CANDESARTAN [Concomitant]
     Active Substance: CANDESARTAN
     Indication: Product used for unknown indication
     Dosage: UNK, QD (UNK, QD UNK, BID (1-0-1))
     Route: 065
  497. CANDESARTAN [Concomitant]
     Active Substance: CANDESARTAN
     Indication: Product used for unknown indication
     Dosage: UNK, QD (UNK, QD UNK, BID (1-0-1))
     Route: 065
  498. CANDESARTAN [Concomitant]
     Active Substance: CANDESARTAN
     Indication: Product used for unknown indication
     Dosage: UNK, QD (UNK, QD UNK, BID (1-0-1))
     Route: 065
  499. CANDESARTAN [Concomitant]
     Active Substance: CANDESARTAN
     Indication: Product used for unknown indication
     Dosage: UNK, QD (UNK, QD UNK, BID (1-0-1))
     Route: 065
  500. CANDESARTAN [Concomitant]
     Active Substance: CANDESARTAN
     Indication: Product used for unknown indication
     Dosage: UNK, QD (UNK, QD UNK, BID (1-0-1))
     Route: 065
  501. CANDESARTAN [Concomitant]
     Active Substance: CANDESARTAN
     Indication: Product used for unknown indication
     Dosage: UNK, QD (UNK, QD UNK, BID (1-0-1))
     Route: 065
  502. CANDESARTAN [Concomitant]
     Active Substance: CANDESARTAN
     Indication: Product used for unknown indication
     Dosage: UNK, QD (UNK, QD UNK, BID (1-0-1))
     Route: 065
  503. CANDESARTAN [Concomitant]
     Active Substance: CANDESARTAN
     Indication: Product used for unknown indication
     Dosage: UNK, QD (UNK, QD UNK, BID (1-0-1))
     Route: 065
  504. CANDESARTAN [Concomitant]
     Active Substance: CANDESARTAN
     Indication: Product used for unknown indication
     Dosage: UNK, QD UNK, BID (1-0-1)
     Route: 065
  505. CANDESARTAN [Concomitant]
     Active Substance: CANDESARTAN
     Indication: Product used for unknown indication
     Dosage: UNK, QD UNK, BID (1-0-1)
     Route: 065
  506. CANDESARTAN [Concomitant]
     Active Substance: CANDESARTAN
     Indication: Product used for unknown indication
     Dosage: UNK, QD UNK, BID (1-0-1)
     Route: 065
  507. CANDESARTAN [Concomitant]
     Active Substance: CANDESARTAN
     Indication: Product used for unknown indication
     Dosage: UNK, QD UNK, BID (1-0-1)
     Route: 065
  508. CANDESARTAN [Concomitant]
     Active Substance: CANDESARTAN
     Indication: Product used for unknown indication
     Dosage: UNK, Q12H (UNK, Q12H DOSE DESCRIPTION : UNK)
     Route: 065
  509. CANDESARTAN [Concomitant]
     Active Substance: CANDESARTAN
     Indication: Product used for unknown indication
     Dosage: UNK, QD UNK, BID (1-0-1)
     Route: 065
  510. CANDESARTAN [Concomitant]
     Active Substance: CANDESARTAN
     Indication: Product used for unknown indication
     Dosage: UNK, Q12H (UNK, Q12H DOSE DESCRIPTION : UNK)
     Route: 065
  511. CANDESARTAN [Concomitant]
     Active Substance: CANDESARTAN
     Indication: Product used for unknown indication
     Dosage: UNK, QD UNK, BID (1-0-1)
     Route: 065
  512. CANDESARTAN [Concomitant]
     Active Substance: CANDESARTAN
     Indication: Product used for unknown indication
     Dosage: UNK, Q12H (UNK, Q12H DOSE DESCRIPTION : UNK)
     Route: 065
  513. CANDESARTAN [Concomitant]
     Active Substance: CANDESARTAN
     Indication: Product used for unknown indication
     Dosage: UNK, QD UNK, BID (1-0-1)
     Route: 065
  514. ATORVASTATIN [Concomitant]
     Active Substance: ATORVASTATIN
     Indication: Product used for unknown indication
     Dosage: UNK UNK, QD
     Route: 065
  515. ATORVASTATIN [Concomitant]
     Active Substance: ATORVASTATIN
     Indication: Product used for unknown indication
     Dosage: UNK UNK, QD
     Route: 065
  516. ATORVASTATIN [Concomitant]
     Active Substance: ATORVASTATIN
     Indication: Product used for unknown indication
     Dosage: UNK UNK, QD
     Route: 065
  517. ATORVASTATIN [Concomitant]
     Active Substance: ATORVASTATIN
     Indication: Product used for unknown indication
     Dosage: UNK UNK, QD
     Route: 065
  518. ATORVASTATIN [Concomitant]
     Active Substance: ATORVASTATIN
     Indication: Product used for unknown indication
     Dosage: UNK UNK, QD
     Route: 065
  519. ATORVASTATIN [Concomitant]
     Active Substance: ATORVASTATIN
     Indication: Product used for unknown indication
     Dosage: UNK UNK, QD
     Route: 065
  520. ATORVASTATIN [Concomitant]
     Active Substance: ATORVASTATIN
     Indication: Product used for unknown indication
     Dosage: UNK UNK, QD
     Route: 065
  521. ATORVASTATIN [Concomitant]
     Active Substance: ATORVASTATIN
     Indication: Product used for unknown indication
     Dosage: UNK UNK, QD
     Route: 065
  522. ATORVASTATIN [Concomitant]
     Active Substance: ATORVASTATIN
     Indication: Product used for unknown indication
     Dosage: UNK UNK, QD
     Route: 065
  523. ATORVASTATIN [Concomitant]
     Active Substance: ATORVASTATIN
     Indication: Product used for unknown indication
     Dosage: UNK, QD, (STRENGTH: 10,60,30,20,80,40 MG)
     Route: 065
  524. TADALAFIL [Concomitant]
     Active Substance: TADALAFIL
     Indication: Product used for unknown indication
     Dosage: UNK, QD
     Route: 065
  525. TADALAFIL [Concomitant]
     Active Substance: TADALAFIL
     Indication: Product used for unknown indication
     Dosage: UNK, QD
     Route: 065
  526. TADALAFIL [Concomitant]
     Active Substance: TADALAFIL
     Indication: Product used for unknown indication
     Dosage: UNK, QD
     Route: 065
  527. TADALAFIL [Concomitant]
     Active Substance: TADALAFIL
     Indication: Product used for unknown indication
     Dosage: UNK, QD
     Route: 065
  528. TADALAFIL [Concomitant]
     Active Substance: TADALAFIL
     Indication: Product used for unknown indication
     Dosage: UNK, QD
     Route: 065
  529. TADALAFIL [Concomitant]
     Active Substance: TADALAFIL
     Indication: Product used for unknown indication
     Dosage: UNK, QD
     Route: 065
  530. TADALAFIL [Concomitant]
     Active Substance: TADALAFIL
     Indication: Product used for unknown indication
     Dosage: UNK, QD
     Route: 065
  531. TADALAFIL [Concomitant]
     Active Substance: TADALAFIL
     Indication: Product used for unknown indication
     Dosage: UNK, QD
     Route: 065
  532. TADALAFIL [Concomitant]
     Active Substance: TADALAFIL
     Indication: Product used for unknown indication
     Dosage: UNK, QD
     Route: 065
  533. TADALAFIL [Concomitant]
     Active Substance: TADALAFIL
     Indication: Product used for unknown indication
     Dosage: UNK, QD
     Route: 065
  534. TADALAFIL [Concomitant]
     Active Substance: TADALAFIL
     Indication: Product used for unknown indication
     Dosage: UNK, QD
     Route: 065
  535. TADALAFIL [Concomitant]
     Active Substance: TADALAFIL
     Indication: Product used for unknown indication
     Dosage: UNK, QD
     Route: 065
  536. TADALAFIL [Concomitant]
     Active Substance: TADALAFIL
     Indication: Product used for unknown indication
     Dosage: UNK, QD
     Route: 065
  537. TADALAFIL [Concomitant]
     Active Substance: TADALAFIL
     Indication: Product used for unknown indication
     Dosage: UNK, QD
     Route: 065
  538. TADALAFIL [Concomitant]
     Active Substance: TADALAFIL
     Indication: Product used for unknown indication
     Dosage: UNK, QD
     Route: 065
  539. TADALAFIL [Concomitant]
     Active Substance: TADALAFIL
     Indication: Product used for unknown indication
     Dosage: UNK, QD
     Route: 065
  540. TADALAFIL [Concomitant]
     Active Substance: TADALAFIL
     Indication: Product used for unknown indication
     Dosage: UNK, QD
     Route: 065
  541. TADALAFIL [Concomitant]
     Active Substance: TADALAFIL
     Indication: Product used for unknown indication
     Dosage: UNK, QD
     Route: 065
  542. TADALAFIL [Concomitant]
     Active Substance: TADALAFIL
     Indication: Product used for unknown indication
     Dosage: UNK, QD
     Route: 065
  543. TADALAFIL [Concomitant]
     Active Substance: TADALAFIL
     Indication: Product used for unknown indication
     Dosage: UNK, QD
     Route: 065
  544. TADALAFIL [Concomitant]
     Active Substance: TADALAFIL
     Indication: Product used for unknown indication
     Dosage: UNK, QD
     Route: 065
  545. TADALAFIL [Concomitant]
     Active Substance: TADALAFIL
     Indication: Product used for unknown indication
     Dosage: UNK, QD
     Route: 065
  546. TADALAFIL [Concomitant]
     Active Substance: TADALAFIL
     Indication: Product used for unknown indication
     Dosage: UNK, QD
     Route: 065
  547. TADALAFIL [Concomitant]
     Active Substance: TADALAFIL
     Indication: Product used for unknown indication
     Dosage: UNK, QD
     Route: 065
  548. TADALAFIL [Concomitant]
     Active Substance: TADALAFIL
     Indication: Product used for unknown indication
     Dosage: UNK, QD
     Route: 065
  549. MAGNECAPS [Concomitant]
     Indication: Muscle spasms
     Dosage: UNK (STREANGTH, 25 MG, 150 MG, 50 MG)
     Route: 065
     Dates: start: 202406, end: 20250225
  550. ACETAMINOPHEN [Concomitant]
     Active Substance: ACETAMINOPHEN
     Indication: Malaise
     Route: 065
     Dates: start: 20241229, end: 20241230
  551. SODIUM PICOSULFATE [Concomitant]
     Active Substance: SODIUM PICOSULFATE
     Indication: Constipation
     Dosage: UNK
     Route: 065
     Dates: start: 20250103, end: 20250225
  552. ALIZAPRIDE HYDROCHLORIDE [Concomitant]
     Active Substance: ALIZAPRIDE HYDROCHLORIDE
     Indication: Malaise
     Dosage: UNK
     Route: 065
     Dates: start: 20241230, end: 20241230
  553. MOVICOL [Concomitant]
     Active Substance: POLYETHYLENE GLYCOL 3350\POTASSIUM CHLORIDE\SODIUM BICARBONATE\SODIUM CHLORIDE
     Indication: Constipation
     Route: 065
     Dates: start: 20250103, end: 20250225
  554. MEDROL [Concomitant]
     Active Substance: METHYLPREDNISOLONE
     Indication: Contrast media allergy
     Dosage: UNK (STRENGTH 16 MG)
     Route: 065
     Dates: start: 20241231, end: 20241231
  555. OMEPRAZOLE [Concomitant]
     Active Substance: OMEPRAZOLE
     Indication: Gastrooesophageal reflux disease
     Route: 065
     Dates: start: 20250103, end: 20250225
  556. AUGMENTIN [Concomitant]
     Active Substance: AMOXICILLIN\CLAVULANATE POTASSIUM
     Indication: Infection prophylaxis
     Dosage: UNK
     Route: 065
     Dates: start: 20250106, end: 20250112
  557. INNOHEP [Concomitant]
     Active Substance: TINZAPARIN SODIUM
     Indication: Thrombosis prophylaxis
     Dosage: UNK
     Route: 065
     Dates: start: 20250117, end: 20250225
  558. CALCIUM CARBONATE\CHOLECALCIFEROL [Concomitant]
     Active Substance: CALCIUM CARBONATE\CHOLECALCIFEROL
     Indication: Prophylaxis
     Dosage: UNK
     Route: 065
     Dates: start: 202406, end: 20250225
  559. BECLOMETHASONE DIPROPIONATE\FORMOTEROL FUMARATE\GLYCOPYRROLATE [Concomitant]
     Active Substance: BECLOMETHASONE DIPROPIONATE\FORMOTEROL FUMARATE\GLYCOPYRROLATE
     Indication: Prophylaxis
     Dosage: UNK
     Route: 065
     Dates: start: 2019, end: 20250225

REACTIONS (4)
  - Pancreatitis acute [Recovered/Resolved]
  - Colitis [Recovered/Resolved]
  - Pancreatitis acute [Recovered/Resolved]
  - Diverticulum intestinal haemorrhagic [Recovered/Resolved]

NARRATIVE: CASE EVENT DATE: 20220114
